FAERS Safety Report 21664826 (Version 1)
Quarter: 2022Q4

REPORT INFORMATION
  Report Type: Report from Study
  Country: IE (occurrence: IE)
  Receive Date: 20221130
  Receipt Date: 20221130
  Transmission Date: 20230113
  Serious: Yes (Death, Hospitalization, Other)
  Sender: FDA-Public Use
  Company Number: IE-BRISTOL-MYERS SQUIBB COMPANY-2022-132947

PATIENT
  Age: 74 Year
  Sex: Male

DRUGS (730)
  1. REVLIMID [Suspect]
     Active Substance: LENALIDOMIDE
     Indication: Plasma cell myeloma
     Dosage: 25 MILLIGRAM, QD
     Route: 048
     Dates: start: 20191112, end: 20191202
  2. REVLIMID [Suspect]
     Active Substance: LENALIDOMIDE
     Dosage: 25 MILLIGRAM, QD
     Route: 048
     Dates: start: 20181015, end: 20181104
  3. REVLIMID [Suspect]
     Active Substance: LENALIDOMIDE
     Dosage: 300 MILLIGRAM, QW
     Route: 065
     Dates: start: 20191213, end: 20191231
  4. REVLIMID [Suspect]
     Active Substance: LENALIDOMIDE
     Dosage: 25 MILLIGRAM, OD
     Route: 048
     Dates: start: 20190906, end: 20191010
  5. REVLIMID [Suspect]
     Active Substance: LENALIDOMIDE
     Dosage: 25 MILLIGRAM, QD
     Route: 048
     Dates: start: 20181210, end: 20181231
  6. REVLIMID [Suspect]
     Active Substance: LENALIDOMIDE
     Dosage: 25 MILLIGRAM, QD
     Route: 048
     Dates: start: 20191210
  7. REVLIMID [Suspect]
     Active Substance: LENALIDOMIDE
     Dosage: UNK
     Route: 048
     Dates: start: 20191231
  8. REVLIMID [Suspect]
     Active Substance: LENALIDOMIDE
     Dosage: 25 MILLIGRAM, QD
     Route: 048
     Dates: start: 20190614, end: 20190704
  9. REVLIMID [Suspect]
     Active Substance: LENALIDOMIDE
     Dosage: UNK
     Route: 048
     Dates: start: 20190809
  10. REVLIMID [Suspect]
     Active Substance: LENALIDOMIDE
     Dosage: 300 MILLIGRAM, QW
     Route: 048
     Dates: start: 20191213, end: 20191231
  11. REVLIMID [Suspect]
     Active Substance: LENALIDOMIDE
     Dosage: 4 MILLIGRAM, 1 DOSE WEEKLY
     Route: 065
     Dates: start: 20190629
  12. REVLIMID [Suspect]
     Active Substance: LENALIDOMIDE
     Dosage: 25 MILLIGRAM, QD
     Route: 048
     Dates: start: 20180821, end: 20180909
  13. REVLIMID [Suspect]
     Active Substance: LENALIDOMIDE
     Dosage: 25 MILLIGRAM, QD
     Route: 048
     Dates: start: 20180917, end: 20181007
  14. REVLIMID [Suspect]
     Active Substance: LENALIDOMIDE
     Dosage: 25 MILLIGRAM, OD
     Route: 048
     Dates: start: 20181112, end: 20181202
  15. REVLIMID [Suspect]
     Active Substance: LENALIDOMIDE
     Dosage: 25 MILLIGRAM, QD
     Route: 048
     Dates: start: 20190712, end: 20190801
  16. REVLIMID [Suspect]
     Active Substance: LENALIDOMIDE
     Dosage: 25 MILLIGRAM, OD
     Route: 048
     Dates: start: 20181210, end: 20181231
  17. REVLIMID [Suspect]
     Active Substance: LENALIDOMIDE
     Dosage: 20 MILLIGRAM, QW
     Route: 048
     Dates: start: 20190906, end: 20191228
  18. REVLIMID [Suspect]
     Active Substance: LENALIDOMIDE
     Dosage: 25 MILLIGRAM, AM
     Route: 048
     Dates: start: 20190123
  19. REVLIMID [Suspect]
     Active Substance: LENALIDOMIDE
     Dosage: UNK
     Route: 048
  20. REVLIMID [Suspect]
     Active Substance: LENALIDOMIDE
     Dosage: UNK
     Route: 048
  21. REVLIMID [Suspect]
     Active Substance: LENALIDOMIDE
     Dosage: UNK
     Route: 048
  22. REVLIMID [Suspect]
     Active Substance: LENALIDOMIDE
     Dosage: UNK
     Route: 048
  23. REVLIMID [Suspect]
     Active Substance: LENALIDOMIDE
     Dosage: 25 MILLIGRAM, QD
     Route: 048
     Dates: start: 20191213, end: 20191231
  24. REVLIMID [Suspect]
     Active Substance: LENALIDOMIDE
     Dosage: 4 MILLIGRAM, QW
     Route: 048
     Dates: start: 20190605, end: 20190622
  25. REVLIMID [Suspect]
     Active Substance: LENALIDOMIDE
     Dosage: UNK
     Route: 065
  26. REVLIMID [Suspect]
     Active Substance: LENALIDOMIDE
     Dosage: 4325 MILLIGRAM
     Route: 048
  27. REVLIMID [Suspect]
     Active Substance: LENALIDOMIDE
     Dosage: 25 MILLIGRAM, QD
     Route: 048
     Dates: start: 20181015, end: 20181104
  28. REVLIMID [Suspect]
     Active Substance: LENALIDOMIDE
     Dosage: 300 MILLIGRAM, QW
     Route: 048
     Dates: start: 20191213
  29. REVLIMID [Suspect]
     Active Substance: LENALIDOMIDE
     Dosage: 25 MILLIGRAM, OD
     Route: 048
     Dates: start: 201909
  30. REVLIMID [Suspect]
     Active Substance: LENALIDOMIDE
     Dosage: 4 MILLIGRAM, QW
     Route: 048
     Dates: start: 20190615, end: 20190622
  31. REVLIMID [Suspect]
     Active Substance: LENALIDOMIDE
     Dosage: 25 MILLIGRAM, QD
     Route: 048
     Dates: start: 20190809, end: 20190829
  32. REVLIMID [Suspect]
     Active Substance: LENALIDOMIDE
     Dosage: UNK
     Route: 048
  33. REVLIMID [Suspect]
     Active Substance: LENALIDOMIDE
     Dosage: 20 MILLIGRAM, QW
     Route: 048
     Dates: start: 20190906, end: 20191010
  34. REVLIMID [Suspect]
     Active Substance: LENALIDOMIDE
     Dosage: 20 MILLIGRAM, QW
     Route: 048
     Dates: start: 20180821, end: 20190101
  35. REVLIMID [Suspect]
     Active Substance: LENALIDOMIDE
     Dosage: 25 MILLIGRAM, OD
     Route: 048
     Dates: start: 20190906, end: 20191231
  36. REVLIMID [Suspect]
     Active Substance: LENALIDOMIDE
     Dosage: 20 MILLIGRAM, QW
     Route: 048
     Dates: start: 20180614, end: 20190830
  37. REVLIMID [Suspect]
     Active Substance: LENALIDOMIDE
     Dosage: UNK
     Route: 048
     Dates: start: 20180917
  38. REVLIMID [Suspect]
     Active Substance: LENALIDOMIDE
     Route: 048
  39. REVLIMID [Suspect]
     Active Substance: LENALIDOMIDE
     Route: 048
  40. REVLIMID [Suspect]
     Active Substance: LENALIDOMIDE
     Dosage: 4325 MILLIGRAM;
     Route: 048
  41. REVLIMID [Suspect]
     Active Substance: LENALIDOMIDE
     Route: 048
  42. REVLIMID [Suspect]
     Active Substance: LENALIDOMIDE
     Dosage: 25 MILLIGRAM, QD
     Route: 048
     Dates: start: 20191112, end: 20191202
  43. REVLIMID [Suspect]
     Active Substance: LENALIDOMIDE
     Route: 048
  44. REVLIMID [Suspect]
     Active Substance: LENALIDOMIDE
     Dosage: 25 MILLIGRAM, QD
     Route: 048
     Dates: start: 20191210
  45. REVLIMID [Suspect]
     Active Substance: LENALIDOMIDE
     Dosage: UNK
     Route: 065
  46. REVLIMID [Suspect]
     Active Substance: LENALIDOMIDE
     Dosage: UNK
     Route: 048
  47. REVLIMID [Suspect]
     Active Substance: LENALIDOMIDE
     Dosage: UNK
     Route: 065
     Dates: start: 20181210
  48. REVLIMID [Suspect]
     Active Substance: LENALIDOMIDE
     Dosage: UNK
     Route: 048
  49. REVLIMID [Suspect]
     Active Substance: LENALIDOMIDE
     Dosage: UNK
     Route: 065
  50. REVLIMID [Suspect]
     Active Substance: LENALIDOMIDE
     Dosage: UNK
     Route: 048
  51. REVLIMID [Suspect]
     Active Substance: LENALIDOMIDE
     Dosage: UNK
     Route: 048
  52. REVLIMID [Suspect]
     Active Substance: LENALIDOMIDE
     Dosage: UNK
     Route: 065
  53. REVLIMID [Suspect]
     Active Substance: LENALIDOMIDE
     Dosage: UNK
     Route: 048
  54. REVLIMID [Suspect]
     Active Substance: LENALIDOMIDE
     Dosage: UNK
     Route: 065
  55. REVLIMID [Suspect]
     Active Substance: LENALIDOMIDE
     Dosage: UNK
     Route: 048
  56. REVLIMID [Suspect]
     Active Substance: LENALIDOMIDE
     Dosage: UNK
     Route: 048
  57. REVLIMID [Suspect]
     Active Substance: LENALIDOMIDE
     Dosage: UNK
     Route: 048
  58. REVLIMID [Suspect]
     Active Substance: LENALIDOMIDE
     Dosage: UNK
     Route: 048
  59. REVLIMID [Suspect]
     Active Substance: LENALIDOMIDE
     Dosage: UNK
     Route: 048
  60. REVLIMID [Suspect]
     Active Substance: LENALIDOMIDE
     Dosage: UNK
     Route: 048
  61. REVLIMID [Suspect]
     Active Substance: LENALIDOMIDE
     Dosage: UNK
     Route: 048
  62. REVLIMID [Suspect]
     Active Substance: LENALIDOMIDE
     Dosage: UNK
     Route: 065
  63. REVLIMID [Suspect]
     Active Substance: LENALIDOMIDE
     Dosage: UNK
     Route: 065
  64. REVLIMID [Suspect]
     Active Substance: LENALIDOMIDE
     Dosage: UNK
     Route: 048
  65. REVLIMID [Suspect]
     Active Substance: LENALIDOMIDE
     Dosage: UNK
     Route: 048
  66. REVLIMID [Suspect]
     Active Substance: LENALIDOMIDE
     Dosage: UNK
     Route: 065
  67. REVLIMID [Suspect]
     Active Substance: LENALIDOMIDE
     Dosage: UNK
     Route: 065
  68. REVLIMID [Suspect]
     Active Substance: LENALIDOMIDE
     Dosage: UNK
     Route: 048
  69. REVLIMID [Suspect]
     Active Substance: LENALIDOMIDE
     Dosage: UNK
     Route: 048
  70. REVLIMID [Suspect]
     Active Substance: LENALIDOMIDE
     Dosage: UNK
     Route: 048
  71. REVLIMID [Suspect]
     Active Substance: LENALIDOMIDE
     Dosage: UNK
     Route: 048
  72. REVLIMID [Suspect]
     Active Substance: LENALIDOMIDE
     Dosage: UNK
     Route: 048
  73. REVLIMID [Suspect]
     Active Substance: LENALIDOMIDE
     Dosage: UNK
     Route: 048
  74. REVLIMID [Suspect]
     Active Substance: LENALIDOMIDE
     Dosage: UNK
     Route: 048
  75. REVLIMID [Suspect]
     Active Substance: LENALIDOMIDE
     Dosage: UNK
     Route: 065
  76. REVLIMID [Suspect]
     Active Substance: LENALIDOMIDE
     Dosage: UNK
     Route: 065
  77. REVLIMID [Suspect]
     Active Substance: LENALIDOMIDE
     Dosage: UNK
     Route: 048
  78. REVLIMID [Suspect]
     Active Substance: LENALIDOMIDE
     Dosage: UNK
     Route: 048
  79. REVLIMID [Suspect]
     Active Substance: LENALIDOMIDE
     Dosage: UNK
     Route: 048
  80. REVLIMID [Suspect]
     Active Substance: LENALIDOMIDE
     Dosage: UNK;
     Route: 048
  81. REVLIMID [Suspect]
     Active Substance: LENALIDOMIDE
     Dosage: UNK; ;
     Route: 048
  82. REVLIMID [Suspect]
     Active Substance: LENALIDOMIDE
     Dosage: UNK; ;
     Route: 048
  83. REVLIMID [Suspect]
     Active Substance: LENALIDOMIDE
     Dosage: UNK; ;
     Route: 048
  84. REVLIMID [Suspect]
     Active Substance: LENALIDOMIDE
     Dosage: UNK
     Route: 065
  85. REVLIMID [Suspect]
     Active Substance: LENALIDOMIDE
     Dosage: UNK
     Route: 048
  86. REVLIMID [Suspect]
     Active Substance: LENALIDOMIDE
     Dosage: UNK
     Route: 048
  87. REVLIMID [Suspect]
     Active Substance: LENALIDOMIDE
     Dosage: UNK
     Route: 048
  88. REVLIMID [Suspect]
     Active Substance: LENALIDOMIDE
     Dosage: UNK
     Route: 048
  89. REVLIMID [Suspect]
     Active Substance: LENALIDOMIDE
     Dosage: UNK
     Route: 065
  90. REVLIMID [Suspect]
     Active Substance: LENALIDOMIDE
     Dosage: 4325 MILLIGRAM
  91. REVLIMID [Suspect]
     Active Substance: LENALIDOMIDE
     Dosage: UNK
  92. REVLIMID [Suspect]
     Active Substance: LENALIDOMIDE
     Dosage: UNK
  93. REVLIMID [Suspect]
     Active Substance: LENALIDOMIDE
     Dosage: 15 MILLIGRAM, QD
     Route: 065
  94. REVLIMID [Suspect]
     Active Substance: LENALIDOMIDE
     Dosage: UNK; ;
     Route: 048
  95. REVLIMID [Suspect]
     Active Substance: LENALIDOMIDE
     Dosage: UNK; ;
     Route: 048
  96. REVLIMID [Suspect]
     Active Substance: LENALIDOMIDE
     Dosage: UNK; ;
     Route: 048
  97. REVLIMID [Suspect]
     Active Substance: LENALIDOMIDE
     Dosage: 15 MILLIGRAM, QD
     Route: 065
  98. REVLIMID [Suspect]
     Active Substance: LENALIDOMIDE
     Dosage: UNK; ;
     Route: 048
  99. REVLIMID [Suspect]
     Active Substance: LENALIDOMIDE
     Dosage: UNK; ;
     Route: 048
  100. REVLIMID [Suspect]
     Active Substance: LENALIDOMIDE
     Dosage: UNK
     Route: 048
  101. REVLIMID [Suspect]
     Active Substance: LENALIDOMIDE
     Dosage: UNK
     Route: 048
  102. REVLIMID [Suspect]
     Active Substance: LENALIDOMIDE
     Dosage: UNK
     Route: 065
  103. REVLIMID [Suspect]
     Active Substance: LENALIDOMIDE
     Dosage: UNK
     Route: 048
  104. REVLIMID [Suspect]
     Active Substance: LENALIDOMIDE
     Dosage: 25 MILLIGRAM, 1 DOSE WEEKLY
     Route: 048
     Dates: start: 20190614, end: 20190704
  105. REVLIMID [Suspect]
     Active Substance: LENALIDOMIDE
     Dosage: 25 MILLIGRAM, QD
     Route: 048
     Dates: start: 20191213
  106. REVLIMID [Suspect]
     Active Substance: LENALIDOMIDE
     Dosage: 20 MILLIGRAM, QW
     Route: 048
     Dates: start: 20191213, end: 20191228
  107. REVLIMID [Suspect]
     Active Substance: LENALIDOMIDE
     Dosage: 25 MILLIGRAM
     Route: 048
     Dates: start: 20190123
  108. REVLIMID [Suspect]
     Active Substance: LENALIDOMIDE
     Dosage: 25 MILLIGRAM, QD
     Route: 048
     Dates: start: 20190123
  109. REVLIMID [Suspect]
     Active Substance: LENALIDOMIDE
     Dosage: 25 MILLIGRAM, QD
     Route: 048
     Dates: start: 20191213, end: 20191231
  110. REVLIMID [Suspect]
     Active Substance: LENALIDOMIDE
     Dosage: UNK
     Route: 065
  111. REVLIMID [Suspect]
     Active Substance: LENALIDOMIDE
     Dosage: UNK
     Route: 048
  112. REVLIMID [Suspect]
     Active Substance: LENALIDOMIDE
     Dosage: 300 MILLIGRAM, QW
     Route: 065
     Dates: start: 20191213
  113. DEXAMETHASONE [Suspect]
     Active Substance: DEXAMETHASONE
     Indication: Plasma cell myeloma
     Dosage: 20 MILLIGRAM, QW
     Route: 048
     Dates: start: 20180917, end: 20181007
  114. DEXAMETHASONE [Suspect]
     Active Substance: DEXAMETHASONE
     Dosage: 20 MILLIGRAM, QW
     Route: 048
     Dates: start: 20180821, end: 20190101
  115. DEXAMETHASONE [Suspect]
     Active Substance: DEXAMETHASONE
     Dosage: 20 MILLIGRAM, QW
     Route: 048
     Dates: start: 20191213, end: 20191228
  116. DEXAMETHASONE [Suspect]
     Active Substance: DEXAMETHASONE
     Dosage: UNK
     Route: 048
     Dates: start: 20190809
  117. DEXAMETHASONE [Suspect]
     Active Substance: DEXAMETHASONE
     Dosage: 20 MILLIGRAM, QW
     Route: 048
     Dates: start: 20190906, end: 20191010
  118. DEXAMETHASONE [Suspect]
     Active Substance: DEXAMETHASONE
     Dosage: 20 MILLIGRAM, QW
     Route: 048
     Dates: start: 20190906, end: 20191228
  119. DEXAMETHASONE [Suspect]
     Active Substance: DEXAMETHASONE
     Dosage: 20 MILLIGRAM, QW
     Route: 048
     Dates: start: 20190614, end: 20190830
  120. DEXAMETHASONE [Suspect]
     Active Substance: DEXAMETHASONE
     Dosage: UNK
     Route: 065
     Dates: start: 20181112
  121. DEXAMETHASONE [Suspect]
     Active Substance: DEXAMETHASONE
     Dosage: UNK
     Route: 065
     Dates: start: 20181210
  122. DEXAMETHASONE [Suspect]
     Active Substance: DEXAMETHASONE
     Dosage: UNK
     Route: 048
     Dates: start: 20181015
  123. DEXAMETHASONE [Suspect]
     Active Substance: DEXAMETHASONE
     Dosage: 20 MILLIGRAM, QW
     Route: 048
     Dates: start: 20181016, end: 20181105
  124. DEXAMETHASONE [Suspect]
     Active Substance: DEXAMETHASONE
     Dosage: 20 MILLIGRAM
     Route: 048
     Dates: start: 20181113, end: 20181203
  125. DEXAMETHASONE [Suspect]
     Active Substance: DEXAMETHASONE
     Dosage: 20 MILLIGRAM, QW
     Route: 048
     Dates: start: 20181211, end: 20190101
  126. DEXAMETHASONE [Suspect]
     Active Substance: DEXAMETHASONE
     Dosage: 20 MILLIGRAM
     Route: 048
     Dates: start: 20190123
  127. DEXAMETHASONE [Suspect]
     Active Substance: DEXAMETHASONE
     Dosage: UNK
     Route: 048
  128. DEXAMETHASONE [Suspect]
     Active Substance: DEXAMETHASONE
     Dosage: 20 MILLIGRAM
     Route: 048
     Dates: start: 20180917, end: 20181007
  129. DEXAMETHASONE [Suspect]
     Active Substance: DEXAMETHASONE
     Dosage: 20 MILLIGRAM, QW
     Route: 048
     Dates: start: 20191228
  130. DEXAMETHASONE [Suspect]
     Active Substance: DEXAMETHASONE
     Dosage: UNK
     Route: 048
  131. DEXAMETHASONE [Suspect]
     Active Substance: DEXAMETHASONE
     Dosage: 20 MILLIGRAM, 1/WEEK
     Route: 048
     Dates: start: 20190614, end: 20190830
  132. DEXAMETHASONE [Suspect]
     Active Substance: DEXAMETHASONE
     Dosage: UNK
     Route: 048
     Dates: start: 20181010
  133. DEXAMETHASONE [Suspect]
     Active Substance: DEXAMETHASONE
     Dosage: UNK
     Route: 065
     Dates: start: 20190809
  134. DEXAMETHASONE [Suspect]
     Active Substance: DEXAMETHASONE
     Dosage: 20 MILLIGRAM, QW
     Route: 048
     Dates: start: 20191006, end: 20191010
  135. DEXAMETHASONE [Suspect]
     Active Substance: DEXAMETHASONE
     Dosage: UNK
     Route: 065
     Dates: start: 20190829
  136. DEXAMETHASONE [Suspect]
     Active Substance: DEXAMETHASONE
     Dosage: UNK; ;
     Route: 048
  137. DEXAMETHASONE [Suspect]
     Active Substance: DEXAMETHASONE
     Dosage: UNK
     Route: 048
  138. DEXAMETHASONE [Suspect]
     Active Substance: DEXAMETHASONE
     Dosage: UNK
     Route: 048
  139. DEXAMETHASONE [Suspect]
     Active Substance: DEXAMETHASONE
     Dosage: UNK
     Route: 065
  140. DEXAMETHASONE [Suspect]
     Active Substance: DEXAMETHASONE
     Dosage: UNK
     Route: 048
  141. DEXAMETHASONE [Suspect]
     Active Substance: DEXAMETHASONE
     Dosage: UNK
     Route: 065
     Dates: start: 20181015
  142. DEXAMETHASONE [Suspect]
     Active Substance: DEXAMETHASONE
     Dosage: UNK
     Route: 048
     Dates: start: 20181210
  143. DEXAMETHASONE [Suspect]
     Active Substance: DEXAMETHASONE
     Dosage: UNK
     Route: 048
     Dates: start: 20181015
  144. DEXAMETHASONE [Suspect]
     Active Substance: DEXAMETHASONE
     Dosage: UNK
     Route: 048
     Dates: start: 20181112
  145. DEXAMETHASONE [Suspect]
     Active Substance: DEXAMETHASONE
     Dosage: UNK
     Route: 065
  146. DEXAMETHASONE [Suspect]
     Active Substance: DEXAMETHASONE
     Dosage: UNK
     Route: 048
  147. DEXAMETHASONE [Suspect]
     Active Substance: DEXAMETHASONE
     Dosage: UNK
     Route: 065
  148. DEXAMETHASONE [Suspect]
     Active Substance: DEXAMETHASONE
     Dosage: 20 MILLIGRAM, 1/WEEK
     Dates: start: 20190906, end: 20191010
  149. DEXAMETHASONE [Suspect]
     Active Substance: DEXAMETHASONE
     Dosage: 20 MILLIGRAM, QW
     Route: 048
     Dates: start: 20190906, end: 20191228
  150. DEXAMETHASONE [Suspect]
     Active Substance: DEXAMETHASONE
     Dosage: UNK
     Route: 048
  151. DEXAMETHASONE [Suspect]
     Active Substance: DEXAMETHASONE
     Dosage: UNK
     Route: 065
  152. DEXAMETHASONE [Suspect]
     Active Substance: DEXAMETHASONE
     Dosage: UNK
     Route: 048
  153. DEXAMETHASONE [Suspect]
     Active Substance: DEXAMETHASONE
     Dosage: UNK
     Route: 065
  154. DEXAMETHASONE [Suspect]
     Active Substance: DEXAMETHASONE
     Dosage: UNK
     Route: 048
  155. DEXAMETHASONE [Suspect]
     Active Substance: DEXAMETHASONE
     Dosage: UNK
     Route: 048
  156. DEXAMETHASONE [Suspect]
     Active Substance: DEXAMETHASONE
     Route: 065
  157. DEXAMETHASONE [Suspect]
     Active Substance: DEXAMETHASONE
     Route: 048
  158. DEXAMETHASONE [Suspect]
     Active Substance: DEXAMETHASONE
     Dosage: UNK
     Route: 065
  159. DEXAMETHASONE [Suspect]
     Active Substance: DEXAMETHASONE
     Route: 048
  160. DEXAMETHASONE [Suspect]
     Active Substance: DEXAMETHASONE
     Route: 065
  161. DEXAMETHASONE [Suspect]
     Active Substance: DEXAMETHASONE
     Route: 065
  162. DEXAMETHASONE [Suspect]
     Active Substance: DEXAMETHASONE
     Route: 065
  163. DEXAMETHASONE [Suspect]
     Active Substance: DEXAMETHASONE
     Route: 048
  164. DEXAMETHASONE [Suspect]
     Active Substance: DEXAMETHASONE
     Dosage: 20 MILLIGRAM, QW
     Route: 065
  165. DEXAMETHASONE [Suspect]
     Active Substance: DEXAMETHASONE
     Dosage: 20 MILLIGRAM, QW
     Route: 048
     Dates: start: 20180821, end: 20190101
  166. DEXAMETHASONE [Suspect]
     Active Substance: DEXAMETHASONE
     Dosage: UNK
     Route: 065
  167. DEXAMETHASONE [Suspect]
     Active Substance: DEXAMETHASONE
     Dosage: 20 MILLIGRAM, QW
     Route: 048
     Dates: start: 20181113, end: 20181203
  168. DEXAMETHASONE [Suspect]
     Active Substance: DEXAMETHASONE
     Dosage: UNK
     Route: 048
     Dates: start: 20180917
  169. DEXAMETHASONE [Suspect]
     Active Substance: DEXAMETHASONE
     Dosage: UNK
     Route: 048
  170. DEXAMETHASONE [Suspect]
     Active Substance: DEXAMETHASONE
     Dosage: UNK
     Route: 048
  171. DEXAMETHASONE [Suspect]
     Active Substance: DEXAMETHASONE
     Dosage: 20 MILLIGRAM, QW
     Route: 048
     Dates: start: 20190123
  172. DEXAMETHASONE [Suspect]
     Active Substance: DEXAMETHASONE
     Dosage: 20 MILLIGRAM
     Route: 048
     Dates: start: 20181211, end: 20190101
  173. IXAZOMIB [Suspect]
     Active Substance: IXAZOMIB
     Indication: Plasma cell myeloma
     Dosage: 4 MILLIGRAM, QW (ADDITIONAL INFO: COVID 19)
     Route: 048
     Dates: start: 20190615, end: 20191226
  174. IXAZOMIB [Suspect]
     Active Substance: IXAZOMIB
     Dosage: 4 MILLIGRAM
     Route: 048
     Dates: start: 20190629, end: 20190713
  175. IXAZOMIB [Suspect]
     Active Substance: IXAZOMIB
     Dosage: 4 MILLIGRAM
     Route: 065
     Dates: start: 20190615, end: 20190615
  176. IXAZOMIB [Suspect]
     Active Substance: IXAZOMIB
     Dosage: 4 MILLIGRAM, QW
     Route: 048
     Dates: start: 20190615, end: 20190615
  177. IXAZOMIB [Suspect]
     Active Substance: IXAZOMIB
     Dosage: 4 MILLIGRAM, QW
     Route: 048
     Dates: start: 20190620, end: 20190802
  178. IXAZOMIB [Suspect]
     Active Substance: IXAZOMIB
     Dosage: 4 MILLIGRAM, QD
     Route: 048
     Dates: start: 20190615, end: 20190619
  179. IXAZOMIB [Suspect]
     Active Substance: IXAZOMIB
     Dosage: 4 MILLIGRAM
     Route: 048
     Dates: start: 20190810, end: 20190824
  180. IXAZOMIB [Suspect]
     Active Substance: IXAZOMIB
     Dosage: 4 MILLIGRAM, QW (ADDITIONAL INFO: COVID 19)
     Route: 048
     Dates: start: 20191213, end: 20191226
  181. IXAZOMIB [Suspect]
     Active Substance: IXAZOMIB
     Dosage: 800 MILLIGRAM (ADDITIONAL INFO: COVID 19)
     Route: 048
     Dates: start: 20191231
  182. IXAZOMIB [Suspect]
     Active Substance: IXAZOMIB
     Dosage: 4 MILLIGRAM
     Route: 048
     Dates: start: 20190803, end: 20190809
  183. IXAZOMIB [Suspect]
     Active Substance: IXAZOMIB
     Dosage: 47.5 MILLIGRAM, QW (ADDITIONAL INFO: COVID 19)
     Route: 048
     Dates: start: 20190615
  184. IXAZOMIB [Suspect]
     Active Substance: IXAZOMIB
     Dosage: UNK
     Route: 048
  185. IXAZOMIB [Suspect]
     Active Substance: IXAZOMIB
     Dosage: 4 MILLIGRAM, 1/WEEK
     Route: 048
  186. IXAZOMIB [Suspect]
     Active Substance: IXAZOMIB
     Dosage: 4 MILLIGRAM, 1/WEEK
     Route: 048
     Dates: start: 201907
  187. IXAZOMIB [Suspect]
     Active Substance: IXAZOMIB
     Dosage: 4 MG, 1X A WEEK
     Route: 048
     Dates: start: 201906, end: 20190802
  188. IXAZOMIB [Suspect]
     Active Substance: IXAZOMIB
     Dosage: 800 MILLIGRAM (ADDITIONAL INFO: COVID 19)
     Route: 048
  189. IXAZOMIB [Suspect]
     Active Substance: IXAZOMIB
     Dosage: UNK
     Route: 048
  190. IXAZOMIB [Suspect]
     Active Substance: IXAZOMIB
     Dosage: 47.5 MILLIGRAM, QW
     Route: 048
  191. IXAZOMIB [Suspect]
     Active Substance: IXAZOMIB
     Dosage: 4 MILLIGRAM, QW
     Route: 048
  192. IXAZOMIB [Suspect]
     Active Substance: IXAZOMIB
     Dosage: 4 MILLIGRAM, QW (ADDITIONAL INFO: COVID 19)
     Route: 048
     Dates: start: 20190810, end: 20190824
  193. IXAZOMIB [Suspect]
     Active Substance: IXAZOMIB
     Dosage: 800 MILLIGRAM (ADDITIONAL INFO: COVID 19)
     Route: 048
     Dates: start: 20191231
  194. IXAZOMIB [Suspect]
     Active Substance: IXAZOMIB
     Dosage: 4 MILLIGRAM, QW (ADDITIONAL INFO: COVID 19)
     Route: 048
  195. IXAZOMIB [Suspect]
     Active Substance: IXAZOMIB
     Dosage: 4 MILLIGRAM, QW (ADDITIONAL INFO: COVID 19)
     Route: 048
     Dates: start: 20190615, end: 20190615
  196. IXAZOMIB [Suspect]
     Active Substance: IXAZOMIB
     Dosage: 4 MILLIGRAM, QW (ADDITIONAL INFO: COVID 19)
     Route: 048
     Dates: start: 20190615, end: 20190622
  197. IXAZOMIB [Suspect]
     Active Substance: IXAZOMIB
     Dosage: 4 MILLIGRAM, QW (ADDITIONAL INFO: COVID 19)
     Route: 048
     Dates: start: 20190615, end: 20190619
  198. IXAZOMIB [Suspect]
     Active Substance: IXAZOMIB
     Dosage: 4 MILLIGRAM, QW (ADDITIONAL INFO: COVID 19)
     Route: 048
     Dates: start: 20190803, end: 20190809
  199. IXAZOMIB [Suspect]
     Active Substance: IXAZOMIB
     Dosage: 800 MILLIGRAM (ADDITIONAL INFO: COVID 19)
     Route: 065
  200. IXAZOMIB [Suspect]
     Active Substance: IXAZOMIB
     Dosage: UNK
     Route: 048
     Dates: start: 20191231
  201. IXAZOMIB [Suspect]
     Active Substance: IXAZOMIB
     Dosage: UNK
     Route: 065
     Dates: start: 20191231
  202. IXAZOMIB [Suspect]
     Active Substance: IXAZOMIB
     Dosage: 4 MILLIGRAM, QW
     Route: 048
     Dates: start: 20190615, end: 20190622
  203. IXAZOMIB [Suspect]
     Active Substance: IXAZOMIB
     Dosage: 20 MILLIGRAM, QW
     Route: 048
     Dates: start: 20191213, end: 20191228
  204. IXAZOMIB [Suspect]
     Active Substance: IXAZOMIB
     Dosage: UNK
     Route: 065
  205. IXAZOMIB [Suspect]
     Active Substance: IXAZOMIB
     Dosage: 4 MILLIGRAM, QW (ADDITIONAL INFO: COVID 19)
     Route: 048
     Dates: start: 20190620, end: 20190802
  206. IXAZOMIB [Suspect]
     Active Substance: IXAZOMIB
     Dosage: 4 MILLIGRAM, QW (ADDITIONAL INFO: COVID 19)
     Route: 048
     Dates: start: 20190629, end: 20190713
  207. IXAZOMIB [Suspect]
     Active Substance: IXAZOMIB
     Dosage: 4 MILLIGRAM, QW
     Route: 048
     Dates: start: 20190629, end: 20190713
  208. IXAZOMIB [Suspect]
     Active Substance: IXAZOMIB
     Dosage: 800 MILLIGRAM (ADDITIONAL INFO: COVID 19)
     Route: 048
  209. IXAZOMIB [Suspect]
     Active Substance: IXAZOMIB
     Dosage: 4 MILLIGRAM, QW
     Route: 048
     Dates: start: 20190620, end: 20190802
  210. IXAZOMIB [Suspect]
     Active Substance: IXAZOMIB
     Dosage: 4 MILLIGRAM, QW
     Route: 048
     Dates: start: 20190803, end: 20190809
  211. IXAZOMIB [Suspect]
     Active Substance: IXAZOMIB
     Dosage: 800 MILLIGRAM (ADDITIONAL INFO: COVID 19)
     Route: 065
  212. IXAZOMIB [Suspect]
     Active Substance: IXAZOMIB
     Dosage: UNK
     Route: 065
  213. NINLARO [Suspect]
     Active Substance: IXAZOMIB CITRATE
     Indication: Plasma cell myeloma
     Dosage: 20 MILLIGRAM, QW
     Route: 048
     Dates: start: 20191213, end: 20191228
  214. NINLARO [Suspect]
     Active Substance: IXAZOMIB CITRATE
     Dosage: 2.3 MILLIGRAM, 1/WEEK
     Route: 065
  215. NINLARO [Suspect]
     Active Substance: IXAZOMIB CITRATE
     Dosage: 4 MILLIGRAM;
     Route: 065
  216. NINLARO [Suspect]
     Active Substance: IXAZOMIB CITRATE
     Dosage: 2.3 MILLIGRAM, 1/WEEK
     Route: 065
  217. NINLARO [Suspect]
     Active Substance: IXAZOMIB CITRATE
     Dosage: 4 MILLIGRAM;
     Route: 048
  218. NINLARO [Suspect]
     Active Substance: IXAZOMIB CITRATE
     Dosage: 4 MILLIGRAM, QW
     Route: 048
  219. NINLARO [Suspect]
     Active Substance: IXAZOMIB CITRATE
     Dosage: 800 MILLIGRAM
     Route: 048
     Dates: start: 20191231
  220. NINLARO [Suspect]
     Active Substance: IXAZOMIB CITRATE
     Dosage: 4 MILLIGRAM, QD
     Route: 048
     Dates: start: 20190615, end: 20190619
  221. NINLARO [Suspect]
     Active Substance: IXAZOMIB CITRATE
     Dosage: 4 MILLIGRAM, QW
     Route: 048
     Dates: start: 20190615, end: 20190622
  222. NINLARO [Suspect]
     Active Substance: IXAZOMIB CITRATE
     Dosage: 4 MILLIGRAM, QW
     Route: 048
     Dates: start: 20190810, end: 20190824
  223. NINLARO [Suspect]
     Active Substance: IXAZOMIB CITRATE
     Dosage: 4 MILLIGRAM, QW
     Route: 048
     Dates: start: 20190803, end: 20190809
  224. NINLARO [Suspect]
     Active Substance: IXAZOMIB CITRATE
     Dosage: 4 MILLIGRAM, QW
     Route: 048
     Dates: start: 20190615, end: 20190615
  225. NINLARO [Suspect]
     Active Substance: IXAZOMIB CITRATE
     Dosage: 4 MILLIGRAM, QW
     Route: 048
     Dates: start: 20190620, end: 20190802
  226. NINLARO [Suspect]
     Active Substance: IXAZOMIB CITRATE
     Dosage: 800 MILLIGRAM
     Route: 048
  227. NINLARO [Suspect]
     Active Substance: IXAZOMIB CITRATE
     Dosage: 4 MILLIGRAM, QW
     Route: 048
     Dates: start: 20190615, end: 20191226
  228. NINLARO [Suspect]
     Active Substance: IXAZOMIB CITRATE
     Dosage: 4 MILLIGRAM, QW
     Route: 048
     Dates: start: 20191213, end: 20191226
  229. NINLARO [Suspect]
     Active Substance: IXAZOMIB CITRATE
     Dosage: 47.5 MILLIGRAM, QW
     Route: 048
  230. NINLARO [Suspect]
     Active Substance: IXAZOMIB CITRATE
     Dosage: 4 MILLIGRAM, QW
     Route: 048
     Dates: start: 20190629, end: 20190713
  231. VENETOCLAX [Suspect]
     Active Substance: VENETOCLAX
     Indication: Product used for unknown indication
     Route: 065
  232. CYCLOPHOSPHAMIDE [Suspect]
     Active Substance: CYCLOPHOSPHAMIDE
     Indication: Plasma cell myeloma
     Route: 048
     Dates: start: 20190907
  233. CYCLOPHOSPHAMIDE [Suspect]
     Active Substance: CYCLOPHOSPHAMIDE
     Route: 048
     Dates: start: 201909, end: 20191010
  234. CYCLOPHOSPHAMIDE [Suspect]
     Active Substance: CYCLOPHOSPHAMIDE
     Route: 048
     Dates: start: 201910
  235. CYCLOPHOSPHAMIDE [Suspect]
     Active Substance: CYCLOPHOSPHAMIDE
     Route: 048
     Dates: start: 20191213
  236. CYCLOPHOSPHAMIDE [Suspect]
     Active Substance: CYCLOPHOSPHAMIDE
     Route: 048
  237. CYCLOPHOSPHAMIDE [Suspect]
     Active Substance: CYCLOPHOSPHAMIDE
     Route: 048
     Dates: end: 20191213
  238. CYCLOPHOSPHAMIDE [Suspect]
     Active Substance: CYCLOPHOSPHAMIDE
     Route: 048
     Dates: end: 201912
  239. CYCLOPHOSPHAMIDE [Suspect]
     Active Substance: CYCLOPHOSPHAMIDE
     Route: 048
     Dates: end: 201912
  240. CYCLOPHOSPHAMIDE [Suspect]
     Active Substance: CYCLOPHOSPHAMIDE
     Route: 048
     Dates: end: 201912
  241. CYCLOPHOSPHAMIDE [Suspect]
     Active Substance: CYCLOPHOSPHAMIDE
     Route: 048
     Dates: start: 201912, end: 20191228
  242. CYCLOPHOSPHAMIDE [Suspect]
     Active Substance: CYCLOPHOSPHAMIDE
     Route: 048
     Dates: end: 201912
  243. MEGACE [Concomitant]
     Active Substance: MEGESTROL ACETATE
     Indication: Malnutrition
     Dosage: 7.5 MILLILITER, BID
     Route: 048
     Dates: start: 20191011
  244. MEGACE [Concomitant]
     Active Substance: MEGESTROL ACETATE
     Dosage: 15 ML, QD
     Route: 048
     Dates: start: 20191019
  245. MEGACE [Concomitant]
     Active Substance: MEGESTROL ACETATE
     Dosage: 15 MILLILITER, QD, 15 ML, QD
     Route: 048
     Dates: start: 20191011
  246. MEGACE [Concomitant]
     Active Substance: MEGESTROL ACETATE
     Dosage: 7.5 MILLILITER, BID
     Route: 048
     Dates: start: 20191011
  247. BUDESONIDE [Concomitant]
     Active Substance: BUDESONIDE
     Indication: Chronic obstructive pulmonary disease
     Dosage: 1 MILLIGRAM, QD
     Route: 048
     Dates: start: 20200107
  248. BUDESONIDE [Concomitant]
     Active Substance: BUDESONIDE
     Indication: Chronic obstructive pulmonary disease
  249. FORTAL [PENTAZOCINE LACTATE] [Concomitant]
     Indication: Malnutrition
     Dosage: UNK UNK, QD
     Route: 048
     Dates: start: 20191020, end: 20191029
  250. FORTAL [PENTAZOCINE LACTATE] [Concomitant]
     Dosage: UNK UNK, BID, QD
     Route: 048
     Dates: start: 20191003, end: 20191011
  251. FOLIC ACID [Concomitant]
     Active Substance: FOLIC ACID
     Indication: Anaemia
     Dosage: 5 MILLIGRAM, QD
     Route: 048
  252. FOLIC ACID [Concomitant]
     Active Substance: FOLIC ACID
     Indication: Product used for unknown indication
     Dosage: 5 MILLIGRAM, QD
     Route: 048
  253. FOLIC ACID [Concomitant]
     Active Substance: FOLIC ACID
     Indication: Anaemia
     Dosage: 5 MILLIGRAM, QD
     Route: 048
  254. FOLIC ACID [Concomitant]
     Active Substance: FOLIC ACID
     Dosage: 5 MILLIGRAM
     Route: 048
  255. FOLIC ACID [Concomitant]
     Active Substance: FOLIC ACID
     Dosage: 5 MILLIGRAM, QD
     Route: 048
  256. FOLIC ACID [Concomitant]
     Active Substance: FOLIC ACID
     Dosage: 5 MG, QD
     Route: 048
  257. FOLIC ACID [Concomitant]
     Active Substance: FOLIC ACID
     Dosage: 5 MILLIGRAM, QD
     Route: 048
  258. FOLIC ACID [Concomitant]
     Active Substance: FOLIC ACID
     Dosage: 5 MILLIGRAM, QD
     Route: 048
  259. FOLIC ACID [Concomitant]
     Active Substance: FOLIC ACID
     Dosage: 5 MILLIGRAM
  260. FOLIC ACID [Concomitant]
     Active Substance: FOLIC ACID
     Dosage: 5 MILLIGRAM
  261. FOLIC ACID [Concomitant]
     Active Substance: FOLIC ACID
     Dosage: 5 MILLIGRAM, QD
  262. FOLIC ACID [Concomitant]
     Active Substance: FOLIC ACID
     Dosage: 5 MILLIGRAM, QD
  263. FOLIC ACID [Concomitant]
     Active Substance: FOLIC ACID
     Dosage: 5 MILLIGRAM
     Route: 048
  264. FOLIC ACID [Concomitant]
     Active Substance: FOLIC ACID
     Dosage: 5 MILLIGRAM, QD
     Route: 048
  265. FOLIC ACID [Concomitant]
     Active Substance: FOLIC ACID
     Dosage: 5 MILLIGRAM
     Route: 048
  266. FOLIC ACID [Concomitant]
     Active Substance: FOLIC ACID
     Dosage: 5 MILLIGRAM
     Route: 048
  267. FOLIC ACID [Concomitant]
     Active Substance: FOLIC ACID
     Dosage: 5 MILLIGRAM, QD
     Route: 048
  268. FOLIC ACID [Concomitant]
     Active Substance: FOLIC ACID
     Dosage: 5 MILLIGRAM, QD
     Route: 048
  269. FOLIC ACID [Concomitant]
     Active Substance: FOLIC ACID
     Dosage: 5 MILLIGRAM, QD
     Route: 048
  270. TRIPTORELIN [Concomitant]
     Active Substance: TRIPTORELIN
     Indication: Prostate cancer
     Dosage: 11.25 MG, Q12MO (11.25 MILLIGRAM, QID, 11.25 MG, QID)
     Route: 065
     Dates: start: 20190515
  271. TRIPTORELIN [Concomitant]
     Active Substance: TRIPTORELIN
     Dosage: 45 MG (1 DOSE YEARLY, 11.25 MG)
     Route: 065
     Dates: start: 20190515
  272. TRIPTORELIN [Concomitant]
     Active Substance: TRIPTORELIN
     Dosage: 11.25 MG, QID
     Route: 065
     Dates: start: 20190515
  273. TRIPTORELIN [Concomitant]
     Active Substance: TRIPTORELIN
     Dosage: 18.247 MG
     Route: 065
  274. TRIPTORELIN [Concomitant]
     Active Substance: TRIPTORELIN
     Dosage: 18.247 MG
     Route: 065
  275. SULFAMETHOXAZOLE\TRIMETHOPRIM [Concomitant]
     Active Substance: SULFAMETHOXAZOLE\TRIMETHOPRIM
     Indication: Prophylaxis
     Dosage: 10 ML, QD
     Route: 048
     Dates: start: 20191011
  276. SULFAMETHOXAZOLE\TRIMETHOPRIM [Concomitant]
     Active Substance: SULFAMETHOXAZOLE\TRIMETHOPRIM
     Dosage: 20 ML, QD
     Route: 048
     Dates: start: 20190102, end: 20191015
  277. CHLORHEXIDINE [Concomitant]
     Active Substance: CHLORHEXIDINE
     Indication: Tongue coated
     Dosage: 30 MILLILITER, QD
     Route: 048
     Dates: start: 20191116, end: 20191220
  278. CHLORHEXIDINE [Concomitant]
     Active Substance: CHLORHEXIDINE
     Indication: Tongue coated
  279. TINZAPARIN [Concomitant]
     Active Substance: TINZAPARIN
     Indication: Prophylaxis
     Dosage: 10000 INTERNATIONAL UNIT, OD
     Route: 058
     Dates: start: 20190110
  280. Altraplen compact [Concomitant]
     Indication: Malnutrition
     Dosage: UNK
     Dates: start: 20191117
  281. DIETARY SUPPLEMENT [Concomitant]
     Active Substance: DIETARY SUPPLEMENT
     Indication: Malnutrition
     Dosage: 1 OT, QD (1 CARTON)
     Dates: start: 20190102, end: 20191029
  282. DIETARY SUPPLEMENT [Concomitant]
     Active Substance: DIETARY SUPPLEMENT
     Dosage: UNK, QD
     Dates: start: 20190103, end: 20191111
  283. DIETARY SUPPLEMENT [Concomitant]
     Active Substance: DIETARY SUPPLEMENT
     Dosage: 1 CARTON, QD
     Route: 048
     Dates: start: 20190102, end: 20191029
  284. FORTICAL [Concomitant]
     Active Substance: CALCITONIN SALMON
     Indication: Product used for unknown indication
     Dosage: UNK
     Route: 065
     Dates: start: 20190103, end: 20191011
  285. FORTICAL [Concomitant]
     Active Substance: CALCITONIN SALMON
     Dosage: UNK
     Route: 065
  286. CALCIUM\CHOLECALCIFEROL [Concomitant]
     Active Substance: CALCIUM\CHOLECALCIFEROL
     Indication: Bone disorder
     Dosage: 2 DOSAGE FORM, OD, 2 TABLET
     Route: 048
     Dates: start: 20191016, end: 20191029
  287. CALCIUM\CHOLECALCIFEROL [Concomitant]
     Active Substance: CALCIUM\CHOLECALCIFEROL
     Indication: Bone disorder
     Dosage: 2 DOSAGE FORM, BID
     Route: 048
     Dates: start: 20190103, end: 20190211
  288. CALCIUM\CHOLECALCIFEROL [Concomitant]
     Active Substance: CALCIUM\CHOLECALCIFEROL
     Indication: Prophylaxis
     Dosage: 6 DOSAGE FORM 2 DOSAGE FORM, TID, 2 TABLET
     Route: 048
     Dates: start: 20190103, end: 20190211
  289. CALCIUM\CHOLECALCIFEROL [Concomitant]
     Active Substance: CALCIUM\CHOLECALCIFEROL
     Indication: Product used for unknown indication
     Dosage: 2 DOSAGE FORM, BID, 2 TABLET
     Route: 048
     Dates: start: 20190212, end: 20191015
  290. CALCIUM\CHOLECALCIFEROL [Concomitant]
     Active Substance: CALCIUM\CHOLECALCIFEROL
     Dosage: UNK UNK, QD
     Route: 048
     Dates: start: 20190104, end: 20190211
  291. CALCIUM\CHOLECALCIFEROL [Concomitant]
     Active Substance: CALCIUM\CHOLECALCIFEROL
     Dosage: UNK
     Route: 048
     Dates: start: 201901
  292. CALCIUM\CHOLECALCIFEROL [Concomitant]
     Active Substance: CALCIUM\CHOLECALCIFEROL
     Dosage: UNK UNK, BID
     Route: 048
     Dates: start: 20190103, end: 20190211
  293. CALCIUM\CHOLECALCIFEROL [Concomitant]
     Active Substance: CALCIUM\CHOLECALCIFEROL
     Dosage: 8 DOSAGE FORM, QD, (4 DOSAGE FORM, BID)
     Route: 048
     Dates: start: 20190103, end: 20191011
  294. CALCIUM\CHOLECALCIFEROL [Concomitant]
     Active Substance: CALCIUM\CHOLECALCIFEROL
     Dosage: 2 DOSAGE FORM, QD
     Route: 048
     Dates: start: 20191016, end: 20191029
  295. CALCIUM\CHOLECALCIFEROL [Concomitant]
     Active Substance: CALCIUM\CHOLECALCIFEROL
     Dosage: 4 DOSAGE FORM, QD (2 DOSAGE FORM, BID, 2 TABLET)
     Route: 048
     Dates: start: 20190212, end: 20191015
  296. CALCIUM\CHOLECALCIFEROL [Concomitant]
     Active Substance: CALCIUM\CHOLECALCIFEROL
     Dosage: 2 DOSAGE FORM, BID
     Route: 048
     Dates: start: 20190103, end: 20190211
  297. CALCIUM\CHOLECALCIFEROL [Concomitant]
     Active Substance: CALCIUM\CHOLECALCIFEROL
     Dosage: 6 DOSAGE FORM, QD (2 TABLET)
     Route: 048
     Dates: start: 20190103, end: 20190211
  298. CALCIUM\CHOLECALCIFEROL [Concomitant]
     Active Substance: CALCIUM\CHOLECALCIFEROL
     Dosage: 2 DOSAGE FORM, BID
     Route: 048
     Dates: start: 20190103, end: 20191011
  299. CALCIUM\CHOLECALCIFEROL [Concomitant]
     Active Substance: CALCIUM\CHOLECALCIFEROL
     Dosage: 6 DOSAGE FORM, TID, 2 TABLET
     Route: 048
     Dates: start: 20190103, end: 20190211
  300. CALCIUM\CHOLECALCIFEROL [Concomitant]
     Active Substance: CALCIUM\CHOLECALCIFEROL
     Dosage: 6 DOSAGE FORM, QD (2 DOSAGE FORM, TID, 2 TABLET)
     Route: 048
     Dates: start: 20190103, end: 20190211
  301. CALCIUM\CHOLECALCIFEROL [Concomitant]
     Active Substance: CALCIUM\CHOLECALCIFEROL
     Dosage: 18 DOSAGE FORM, QD
     Route: 048
     Dates: start: 20190103, end: 20190211
  302. CALCIUM\CHOLECALCIFEROL [Concomitant]
     Active Substance: CALCIUM\CHOLECALCIFEROL
     Dosage: 4 DOSAGE FORM, BID
     Route: 048
     Dates: start: 20190103, end: 20191011
  303. CALCIUM\CHOLECALCIFEROL [Concomitant]
     Active Substance: CALCIUM\CHOLECALCIFEROL
     Dosage: 2 DOSAGE FORM, OD, 2 TABLET
     Route: 048
     Dates: start: 20191016, end: 20191029
  304. ZINC SULFATE [Concomitant]
     Active Substance: ZINC SULFATE
     Indication: Malnutrition
     Dosage: UNK, BID;
     Route: 048
     Dates: start: 20190103, end: 20191011
  305. ZINC SULFATE [Concomitant]
     Active Substance: ZINC SULFATE
     Dosage: UNK
     Route: 065
  306. ZINC SULFATE [Concomitant]
     Active Substance: ZINC SULFATE
     Dosage: UNK
     Route: 065
  307. ZINC SULFATE [Concomitant]
     Active Substance: ZINC SULFATE
     Dosage: UNK
     Route: 065
  308. SODIUM FLUORIDE [Concomitant]
     Active Substance: SODIUM FLUORIDE
     Indication: Malnutrition
     Dosage: 90 MILLILITER
     Route: 048
     Dates: start: 20190103
  309. MAGNESIUM SULFATE [Concomitant]
     Active Substance: MAGNESIUM SULFATE
     Indication: Product used for unknown indication
     Dosage: UNK UNK, BID;
     Route: 048
     Dates: start: 20190103, end: 20191011
  310. MAGNESIUM SULFATE [Concomitant]
     Active Substance: MAGNESIUM SULFATE
     Indication: Malnutrition
     Dosage: UNK
     Route: 065
  311. MAGNESIUM SULFATE [Concomitant]
     Active Substance: MAGNESIUM SULFATE
     Dosage: UNK
     Route: 065
  312. MAGNESIUM SULFATE [Concomitant]
     Active Substance: MAGNESIUM SULFATE
     Dosage: UNK; ;
     Route: 065
  313. MAGNESIUM SULFATE [Concomitant]
     Active Substance: MAGNESIUM SULFATE
     Dosage: UNK; ;
     Route: 065
  314. MAGNESIUM SULFATE [Concomitant]
     Active Substance: MAGNESIUM SULFATE
     Dosage: UNK
  315. MAGNESIUM SULFATE [Concomitant]
     Active Substance: MAGNESIUM SULFATE
     Dosage: UNK
     Route: 065
  316. MAGNESIUM SULFATE [Concomitant]
     Active Substance: MAGNESIUM SULFATE
     Dosage: UNK, BID
     Route: 048
     Dates: start: 20190103, end: 20191011
  317. MAGNESIUM SULFATE [Concomitant]
     Active Substance: MAGNESIUM SULFATE
     Dosage: UNK; ;
     Route: 065
  318. MAGNESIUM SULFATE [Concomitant]
     Active Substance: MAGNESIUM SULFATE
     Dosage: UNK; ;
     Route: 065
  319. CARBOHYDRATES\FATTY ACIDS\MINERALS\PROTEIN\VITAMINS [Concomitant]
     Active Substance: CARBOHYDRATES\FATTY ACIDS\MINERALS\PROTEIN\VITAMINS
     Indication: Malnutrition
     Dosage: UNK UNK, QD
     Route: 048
     Dates: start: 20190102, end: 20191029
  320. CARBOHYDRATES\FATTY ACIDS\MINERALS\PROTEIN\VITAMINS [Concomitant]
     Active Substance: CARBOHYDRATES\FATTY ACIDS\MINERALS\PROTEIN\VITAMINS
     Dosage: 2 DOSAGE FORM, QD
     Route: 048
     Dates: start: 20190103, end: 20191011
  321. CARBOHYDRATES\FATTY ACIDS\MINERALS\PROTEIN\VITAMINS [Concomitant]
     Active Substance: CARBOHYDRATES\FATTY ACIDS\MINERALS\PROTEIN\VITAMINS
     Dosage: UNK UNK, QD
     Route: 048
     Dates: start: 20190103, end: 20191011
  322. CARBOHYDRATES\FATTY ACIDS\MINERALS\PROTEIN\VITAMINS [Concomitant]
     Active Substance: CARBOHYDRATES\FATTY ACIDS\MINERALS\PROTEIN\VITAMINS
     Dosage: UNK UNK, QD
     Route: 048
     Dates: start: 20190103, end: 20191011
  323. CUPRIC SULFATE ANHYDROUS [Concomitant]
     Active Substance: CUPRIC SULFATE ANHYDROUS
     Indication: Malnutrition
     Dosage: UNK UNK, BID;
     Route: 048
     Dates: start: 20190103, end: 20191011
  324. CUPRIC SULFATE ANHYDROUS [Concomitant]
     Active Substance: CUPRIC SULFATE ANHYDROUS
     Dosage: UNK, BID
     Route: 048
     Dates: start: 20190103, end: 20191011
  325. CUPRIC SULFATE ANHYDROUS [Concomitant]
     Active Substance: CUPRIC SULFATE ANHYDROUS
     Dosage: UNK
  326. CUPRIC SULFATE ANHYDROUS [Concomitant]
     Active Substance: CUPRIC SULFATE ANHYDROUS
     Dosage: UNK
     Route: 065
  327. CUPRIC SULFATE ANHYDROUS [Concomitant]
     Active Substance: CUPRIC SULFATE ANHYDROUS
     Dosage: UNK
     Route: 065
  328. CUPRIC SULFATE ANHYDROUS [Concomitant]
     Active Substance: CUPRIC SULFATE ANHYDROUS
     Dosage: UNK
     Route: 065
  329. CUPRIC SULFATE ANHYDROUS [Concomitant]
     Active Substance: CUPRIC SULFATE ANHYDROUS
     Dosage: UNK
     Route: 065
  330. CUPRIC SULFATE ANHYDROUS [Concomitant]
     Active Substance: CUPRIC SULFATE ANHYDROUS
     Dosage: UNK
     Route: 065
  331. CUPRIC SULFATE ANHYDROUS [Concomitant]
     Active Substance: CUPRIC SULFATE ANHYDROUS
     Dosage: UNK
     Route: 065
  332. CUPRIC SULFATE ANHYDROUS [Concomitant]
     Active Substance: CUPRIC SULFATE ANHYDROUS
     Dosage: UNK
     Route: 065
  333. CUPRIC SULFATE ANHYDROUS [Concomitant]
     Active Substance: CUPRIC SULFATE ANHYDROUS
     Dosage: UNK
     Route: 065
  334. CUPRIC SULFATE ANHYDROUS [Concomitant]
     Active Substance: CUPRIC SULFATE ANHYDROUS
     Dosage: UNK
     Route: 065
  335. CUPRIC SULFATE ANHYDROUS [Concomitant]
     Active Substance: CUPRIC SULFATE ANHYDROUS
     Dosage: UNK
     Route: 065
  336. CUPRIC SULFATE ANHYDROUS [Concomitant]
     Active Substance: CUPRIC SULFATE ANHYDROUS
     Dosage: UNK
     Route: 065
  337. CUPRIC SULFATE ANHYDROUS [Concomitant]
     Active Substance: CUPRIC SULFATE ANHYDROUS
     Dosage: UNK
     Route: 065
  338. CUPRIC SULFATE ANHYDROUS [Concomitant]
     Active Substance: CUPRIC SULFATE ANHYDROUS
     Dosage: UNK
     Route: 065
  339. VALACYCLOVIR HYDROCHLORIDE [Concomitant]
     Active Substance: VALACYCLOVIR HYDROCHLORIDE
     Indication: Prophylaxis
     Dosage: 500 MILLIGRAM, OD
     Route: 048
     Dates: start: 20190817
  340. VALACYCLOVIR HYDROCHLORIDE [Concomitant]
     Active Substance: VALACYCLOVIR HYDROCHLORIDE
     Dosage: 500 MILLIGRAM, OD
     Route: 048
  341. VALACYCLOVIR HYDROCHLORIDE [Concomitant]
     Active Substance: VALACYCLOVIR HYDROCHLORIDE
     Dosage: 500 MILLIGRAM, OD
     Route: 048
     Dates: start: 20190817
  342. ZOLEDRONIC ACID [Concomitant]
     Active Substance: ZOLEDRONIC ACID
     Indication: Prophylaxis
     Dosage: 4 MILLIGRAM
     Route: 041
     Dates: start: 20181106
  343. ZOLEDRONIC ACID [Concomitant]
     Active Substance: ZOLEDRONIC ACID
     Indication: Product used for unknown indication
     Dosage: UNK
     Route: 041
     Dates: start: 20181106
  344. ZOLEDRONIC ACID [Concomitant]
     Active Substance: ZOLEDRONIC ACID
     Dosage: 4 MILLIGRAM IN 1 MONTH
     Route: 041
     Dates: start: 20181106
  345. ZOLEDRONIC ACID [Concomitant]
     Active Substance: ZOLEDRONIC ACID
     Dosage: 4 MILLIGRAM, OD
     Route: 041
     Dates: start: 20181106
  346. ZOLEDRONIC ACID [Concomitant]
     Active Substance: ZOLEDRONIC ACID
     Dosage: UNK
  347. ZOLEDRONIC ACID [Concomitant]
     Active Substance: ZOLEDRONIC ACID
     Dosage: 4 MILLIGRAM, QD
     Route: 041
     Dates: start: 20181106
  348. COTRIMOXAZOLE [Concomitant]
     Active Substance: SULFAMETHOXAZOLE\TRIMETHOPRIM
     Indication: Antifungal prophylaxis
     Dosage: 480 MILLIGRAM, QD
     Route: 048
     Dates: start: 20180817, end: 20191015
  349. COTRIMOXAZOLE [Concomitant]
     Active Substance: SULFAMETHOXAZOLE\TRIMETHOPRIM
     Indication: Product used for unknown indication
  350. PANTOPRAZOLE [Concomitant]
     Active Substance: PANTOPRAZOLE
     Indication: Prophylaxis
     Dosage: 80 MILLIGRAM, QD
     Route: 048
     Dates: start: 20191016
  351. PANTOPRAZOLE [Concomitant]
     Active Substance: PANTOPRAZOLE
     Indication: Product used for unknown indication
     Dosage: 20 MILLIGRAM, QD
     Route: 048
     Dates: start: 20190102, end: 20190102
  352. PANTOPRAZOLE [Concomitant]
     Active Substance: PANTOPRAZOLE
     Dosage: 20 MILLIGRAM, OD
     Route: 048
     Dates: start: 20190102, end: 20191015
  353. PANTOPRAZOLE [Concomitant]
     Active Substance: PANTOPRAZOLE
     Dosage: 20 MILLIGRAM
     Route: 048
     Dates: start: 20180803
  354. PANTOPRAZOLE [Concomitant]
     Active Substance: PANTOPRAZOLE
     Dosage: 80 MILLIGRAM, QD
     Route: 048
     Dates: start: 20191015
  355. PANTOPRAZOLE [Concomitant]
     Active Substance: PANTOPRAZOLE
     Dosage: UNK UNK, QD
     Route: 048
     Dates: start: 20191020, end: 20191020
  356. PANTOPRAZOLE [Concomitant]
     Active Substance: PANTOPRAZOLE
     Dosage: 20 MILLIGRAM, QD
     Route: 048
     Dates: start: 20190102, end: 20191015
  357. PANTOPRAZOLE [Concomitant]
     Active Substance: PANTOPRAZOLE
     Dosage: 40 MILLIGRAM, BID (80 MG, QD)
     Route: 048
     Dates: start: 20191016
  358. PANTOPRAZOLE [Concomitant]
     Active Substance: PANTOPRAZOLE
     Dosage: 80 MILLIGRAM, QD
     Route: 048
     Dates: start: 20191016
  359. CHOLECALCIFEROL [Concomitant]
     Active Substance: CHOLECALCIFEROL
     Indication: Malnutrition
     Dosage: UNK UNK, BID;
     Route: 048
     Dates: start: 20190212, end: 20191015
  360. CHOLECALCIFEROL [Concomitant]
     Active Substance: CHOLECALCIFEROL
     Indication: Bone disorder
     Dosage: UNK UNK, BID;
     Route: 048
     Dates: start: 20190103, end: 20191011
  361. CHOLECALCIFEROL [Concomitant]
     Active Substance: CHOLECALCIFEROL
     Indication: Prophylaxis
     Dosage: UNK, QD;
     Route: 048
     Dates: start: 20191016, end: 20191029
  362. CHOLECALCIFEROL [Concomitant]
     Active Substance: CHOLECALCIFEROL
     Dosage: UNK UNK, BID;
     Route: 048
     Dates: start: 20190103, end: 20190211
  363. TRIMETHOPRIM [Concomitant]
     Active Substance: TRIMETHOPRIM
     Indication: Antifungal prophylaxis
     Dosage: 20 MILLILITER, QD
     Route: 048
     Dates: start: 20190102, end: 20191015
  364. TRIMETHOPRIM [Concomitant]
     Active Substance: TRIMETHOPRIM
     Indication: Prophylaxis
     Dosage: 480 MILLIGRAM, QD
     Route: 048
     Dates: start: 20191011
  365. TRIMETHOPRIM [Concomitant]
     Active Substance: TRIMETHOPRIM
     Dosage: 10 MILLILITER;
     Route: 048
     Dates: start: 20191011
  366. TRIMETHOPRIM [Concomitant]
     Active Substance: TRIMETHOPRIM
     Dosage: 480 MILLIGRAM, QD
     Route: 048
     Dates: start: 20180817, end: 20191015
  367. TRIMETHOPRIM [Concomitant]
     Active Substance: TRIMETHOPRIM
     Dosage: UNK
     Route: 065
     Dates: start: 20191011
  368. TRIMETHOPRIM [Concomitant]
     Active Substance: TRIMETHOPRIM
     Dosage: 480 MG, QD
  369. TRIMETHOPRIM [Concomitant]
     Active Substance: TRIMETHOPRIM
     Dosage: 480 MILLIGRAM, QD
     Route: 048
  370. TRIMETHOPRIM [Concomitant]
     Active Substance: TRIMETHOPRIM
     Dosage: 480 MILLIGRAM, QD
     Route: 048
  371. TRIMETHOPRIM [Concomitant]
     Active Substance: TRIMETHOPRIM
     Dosage: 480 MILLIGRAM, QD
     Route: 048
  372. TRIMETHOPRIM [Concomitant]
     Active Substance: TRIMETHOPRIM
     Dosage: 480 MG, QD
     Route: 048
  373. TRIMETHOPRIM [Concomitant]
     Active Substance: TRIMETHOPRIM
     Dosage: 480 MG, QD
     Route: 048
  374. TRIMETHOPRIM [Concomitant]
     Active Substance: TRIMETHOPRIM
     Dosage: 480 MG, QD
     Route: 048
  375. TRIMETHOPRIM [Concomitant]
     Active Substance: TRIMETHOPRIM
     Dosage: 480 MG, QD
     Route: 048
  376. TRIMETHOPRIM [Concomitant]
     Active Substance: TRIMETHOPRIM
     Dosage: 480 MG, QD
     Route: 048
  377. TRIMETHOPRIM [Concomitant]
     Active Substance: TRIMETHOPRIM
     Dosage: 480 MG, QD
     Route: 048
  378. TRIMETHOPRIM [Concomitant]
     Active Substance: TRIMETHOPRIM
     Dosage: 480 MG, QD
     Route: 048
  379. TRIMETHOPRIM [Concomitant]
     Active Substance: TRIMETHOPRIM
     Dosage: 480 MILLIGRAM, QD
     Route: 048
  380. TRIMETHOPRIM [Concomitant]
     Active Substance: TRIMETHOPRIM
     Dosage: 480 MG, QD
     Route: 048
  381. TRIMETHOPRIM [Concomitant]
     Active Substance: TRIMETHOPRIM
     Dosage: 480 MG, QD
     Route: 048
  382. TRIMETHOPRIM [Concomitant]
     Active Substance: TRIMETHOPRIM
     Dosage: 480 MILLIGRAM, QD
     Route: 048
  383. TRIMETHOPRIM [Concomitant]
     Active Substance: TRIMETHOPRIM
     Dosage: 480 MG, QD
     Route: 048
  384. TRIMETHOPRIM [Concomitant]
     Active Substance: TRIMETHOPRIM
     Dosage: 480 MG, QD
     Route: 048
  385. TRIMETHOPRIM [Concomitant]
     Active Substance: TRIMETHOPRIM
     Dosage: 480 MILLIGRAM, QD
     Route: 048
  386. TRIMETHOPRIM [Concomitant]
     Active Substance: TRIMETHOPRIM
     Dosage: 480 MILLIGRAM, QD
     Route: 048
  387. VITAMINS [Concomitant]
     Active Substance: VITAMINS
     Indication: Prophylaxis
     Dosage: DAILY DOSE : 1 TABLET?UNIT DOSE : 1 TABLET?1 TABLET
     Route: 048
     Dates: start: 20190104
  388. CALCIUM CARBONATE [Concomitant]
     Active Substance: CALCIUM CARBONATE
     Indication: Malnutrition
     Dosage: UNK, BID
     Route: 048
     Dates: start: 20190103, end: 20191011
  389. ASPIRIN [Concomitant]
     Active Substance: ASPIRIN
     Indication: Prophylaxis
     Dosage: 75 MILLIGRAM
     Route: 048
  390. ASPIRIN [Concomitant]
     Active Substance: ASPIRIN
     Indication: Anaemia
     Dosage: 75 MILLIGRAM, QD
     Route: 048
  391. ASPIRIN [Concomitant]
     Active Substance: ASPIRIN
     Dosage: 75 MILLIGRAM
     Route: 048
  392. ASPIRIN [Concomitant]
     Active Substance: ASPIRIN
     Dosage: 75 MILLIGRAM
     Route: 048
  393. INFLUENZA VIRUS VACCINE [Concomitant]
     Active Substance: INFLUENZA VIRUS VACCINE
     Indication: Prophylaxis
     Dosage: 1 DF, QD (1 AMPULE)
     Route: 065
     Dates: start: 20191112, end: 20191112
  394. INFLUENZA VIRUS VACCINE [Concomitant]
     Active Substance: INFLUENZA VIRUS VACCINE
     Dosage: UNK
     Route: 065
  395. INFLUENZA VIRUS VACCINE [Concomitant]
     Active Substance: INFLUENZA VIRUS VACCINE
     Dosage: UNK
     Route: 065
  396. DOXYCYCLINE [Concomitant]
     Active Substance: DOXYCYCLINE
     Indication: Product used for unknown indication
     Dosage: 200 MILLIGRAM, BID
     Route: 048
     Dates: start: 20190109, end: 20190114
  397. DOXYCYCLINE [Concomitant]
     Active Substance: DOXYCYCLINE
     Dosage: 400 MG, QD
     Route: 048
     Dates: start: 20191009, end: 20191114
  398. CLARITHROMYCIN [Concomitant]
     Active Substance: CLARITHROMYCIN
     Indication: Product used for unknown indication
     Dosage: 500 MILLIGRAM
     Route: 065
     Dates: start: 20190106, end: 20190109
  399. CLARITHROMYCIN [Concomitant]
     Active Substance: CLARITHROMYCIN
     Dosage: 500 MG
     Route: 048
     Dates: start: 20191006, end: 20191009
  400. CLARITHROMYCIN [Concomitant]
     Active Substance: CLARITHROMYCIN
     Dosage: 500 MILLIGRAM
     Route: 048
     Dates: start: 20190106, end: 20190109
  401. PIPERACILLIN SODIUM\TAZOBACTAM SODIUM [Concomitant]
     Active Substance: PIPERACILLIN SODIUM\TAZOBACTAM SODIUM
     Indication: Product used for unknown indication
     Dosage: 4.5 G
     Route: 042
     Dates: start: 20190106, end: 20190110
  402. PIPERACILLIN SODIUM\TAZOBACTAM SODIUM [Concomitant]
     Active Substance: PIPERACILLIN SODIUM\TAZOBACTAM SODIUM
  403. ENOXAPARIN SODIUM [Concomitant]
     Active Substance: ENOXAPARIN SODIUM
     Indication: Product used for unknown indication
     Dosage: 40 MG, QD
     Route: 048
     Dates: start: 20190103, end: 20190109
  404. ENOXAPARIN SODIUM [Concomitant]
     Active Substance: ENOXAPARIN SODIUM
  405. SODIUM PHOSPHATE, MONOBASIC, ANHYDROUS [Concomitant]
     Active Substance: SODIUM PHOSPHATE, MONOBASIC, ANHYDROUS
     Indication: Product used for unknown indication
     Dosage: DAILY DOSE : 3 TABLET?TOTAL DOSE : 15 TABLET?UNIT DOSE : 1 TABLET?3 TABLET
     Route: 048
     Dates: start: 20190107, end: 20190112
  406. SODIUM PHOSPHATE, MONOBASIC, ANHYDROUS [Concomitant]
     Active Substance: SODIUM PHOSPHATE, MONOBASIC, ANHYDROUS
  407. INNOHEP [Concomitant]
     Active Substance: TINZAPARIN SODIUM
     Indication: Product used for unknown indication
     Dosage: 10000 IU (INTERNATIONAL UNIT)
     Route: 058
     Dates: start: 20190110
  408. INNOHEP [Concomitant]
     Active Substance: TINZAPARIN SODIUM
     Indication: Prophylaxis
  409. TAZCINE [PENTAZOCINE LACTATE] [Concomitant]
     Indication: Product used for unknown indication
     Dosage: 4.5 GRAM, QD
     Route: 042
     Dates: start: 20190106, end: 20190110
  410. ZOLMITRIPTAN [Concomitant]
     Active Substance: ZOLMITRIPTAN
     Indication: Product used for unknown indication
     Route: 048
  411. ZOLMITRIPTAN [Concomitant]
     Active Substance: ZOLMITRIPTAN
     Dosage: UNK
     Route: 048
  412. MINERALS\VITAMINS [Concomitant]
     Active Substance: MINERALS\VITAMINS
     Indication: Prophylaxis
     Dosage: 1 DOSAGE FORM, QD
     Route: 048
     Dates: start: 20190104
  413. INFLUENZA VIRUS VACCINE [Concomitant]
     Active Substance: INFLUENZA VIRUS VACCINE
     Indication: Prophylaxis
     Dosage: UNK UNK, QD;
     Route: 065
     Dates: start: 20191112, end: 20191112
  414. INFLUENZA VIRUS VACCINE [Concomitant]
     Active Substance: INFLUENZA VIRUS VACCINE
     Dosage: 1 DOSAGE FORM (1 AMPULE), OD,
     Route: 065
     Dates: start: 20191112, end: 20191112
  415. INFLUENZA VIRUS VACCINE [Concomitant]
     Active Substance: INFLUENZA VIRUS VACCINE
     Dosage: UNK
     Route: 065
  416. INFLUENZA VIRUS VACCINE [Concomitant]
     Active Substance: INFLUENZA VIRUS VACCINE
     Dosage: UNK
     Route: 065
  417. INFLUENZA VIRUS VACCINE [Concomitant]
     Active Substance: INFLUENZA VIRUS VACCINE
     Dosage: UNK
     Route: 065
  418. INFLUENZA VIRUS VACCINE [Concomitant]
     Active Substance: INFLUENZA VIRUS VACCINE
     Dosage: UNK
     Route: 065
  419. MAGNESIUM [Concomitant]
     Active Substance: MAGNESIUM
     Indication: Product used for unknown indication
     Dosage: UNK
     Route: 048
     Dates: start: 20190105, end: 20190112
  420. CALCIUM ACETATE [Concomitant]
     Active Substance: CALCIUM ACETATE
     Indication: Malnutrition
     Dosage: UNK
     Route: 048
     Dates: start: 20191020, end: 20191029
  421. CALCIUM ACETATE [Concomitant]
     Active Substance: CALCIUM ACETATE
     Dosage: UNK, BID
     Route: 048
     Dates: start: 20191003, end: 20191011
  422. ASPIRIN [Concomitant]
     Active Substance: ASPIRIN
     Indication: Prophylaxis
     Dosage: 75 MILLIGRAM, QD
     Route: 048
  423. ASPIRIN [Concomitant]
     Active Substance: ASPIRIN
     Indication: Anaemia
     Dosage: 75 MILLIGRAM, QD
     Route: 048
  424. ASPIRIN [Concomitant]
     Active Substance: ASPIRIN
     Dosage: 75 MG, QD
     Route: 048
  425. ASPIRIN [Concomitant]
     Active Substance: ASPIRIN
     Dosage: 75 MILLIGRAM, QD
     Route: 048
  426. ASPIRIN [Concomitant]
     Active Substance: ASPIRIN
     Dosage: UNK
     Route: 065
  427. ASPIRIN [Concomitant]
     Active Substance: ASPIRIN
     Dosage: 75 MILLIGRAM, QD
     Route: 048
  428. ASPIRIN [Concomitant]
     Active Substance: ASPIRIN
     Dosage: UNK
     Route: 065
  429. ASPIRIN [Concomitant]
     Active Substance: ASPIRIN
     Dosage: 75 MILLIGRAM, QD
     Route: 048
  430. ASPIRIN [Concomitant]
     Active Substance: ASPIRIN
     Dosage: 75 MG, QD
     Route: 048
  431. ASPIRIN [Concomitant]
     Active Substance: ASPIRIN
     Dosage: 75 MG, QD
     Route: 048
  432. ASPIRIN [Concomitant]
     Active Substance: ASPIRIN
     Dosage: 75 MG, QD
     Route: 048
  433. ASPIRIN [Concomitant]
     Active Substance: ASPIRIN
     Dosage: 75 MG, QD
     Route: 048
  434. ASPIRIN [Concomitant]
     Active Substance: ASPIRIN
     Dosage: 75 MILLIGRAM, QD
     Route: 048
  435. ASPIRIN [Concomitant]
     Active Substance: ASPIRIN
     Dosage: UNK
     Route: 065
  436. ASPIRIN [Concomitant]
     Active Substance: ASPIRIN
     Dosage: 75 MG, QD
     Route: 048
  437. ASPIRIN [Concomitant]
     Active Substance: ASPIRIN
     Dosage: 75 MG, QD
     Route: 048
  438. ASPIRIN [Concomitant]
     Active Substance: ASPIRIN
     Dosage: UNK
     Route: 065
  439. ASPIRIN [Concomitant]
     Active Substance: ASPIRIN
     Dosage: 75 MILLIGRAM, QD
     Route: 048
  440. ASPIRIN [Concomitant]
     Active Substance: ASPIRIN
     Dosage: 75 MG, QD
     Route: 048
  441. ASPIRIN [Concomitant]
     Active Substance: ASPIRIN
     Dosage: 75 MG, QD
     Route: 048
  442. ASPIRIN [Concomitant]
     Active Substance: ASPIRIN
     Dosage: UNK
     Route: 065
  443. ASPIRIN [Concomitant]
     Active Substance: ASPIRIN
     Dosage: 75 MILLIGRAM, QD
     Route: 048
  444. ASPIRIN [Concomitant]
     Active Substance: ASPIRIN
     Dosage: UNK
     Route: 065
  445. ASPIRIN [Concomitant]
     Active Substance: ASPIRIN
     Dosage: 75 MILLIGRAM, QD
     Route: 048
  446. MANGANESE SULFATE [Concomitant]
     Active Substance: MANGANESE SULFATE
     Indication: Malnutrition
     Dosage: UNK UNK, QD, (UNK UNK, BID)
     Route: 048
     Dates: start: 20190103, end: 20191011
  447. MANGANESE SULFATE [Concomitant]
     Active Substance: MANGANESE SULFATE
     Dosage: UNK, BID
     Route: 048
     Dates: start: 20190103, end: 20191011
  448. MANGANESE SULFATE [Concomitant]
     Active Substance: MANGANESE SULFATE
     Dosage: UNK
  449. AUGMENTIN [Concomitant]
     Active Substance: AMOXICILLIN\CLAVULANATE POTASSIUM
     Indication: Product used for unknown indication
     Dosage: 625 MILLIGRAM;
     Route: 048
     Dates: start: 20190103, end: 20190106
  450. AUGMENTIN [Concomitant]
     Active Substance: AMOXICILLIN\CLAVULANATE POTASSIUM
     Dosage: 1.2 GRAM;
     Route: 042
     Dates: start: 20190102, end: 20190103
  451. AUGMENTIN [Concomitant]
     Active Substance: AMOXICILLIN\CLAVULANATE POTASSIUM
     Route: 048
     Dates: start: 20191003, end: 20191006
  452. AUGMENTIN [Concomitant]
     Active Substance: AMOXICILLIN\CLAVULANATE POTASSIUM
     Dosage: 1.2 G
     Route: 042
     Dates: start: 20191002, end: 20191003
  453. SODIUM FLUORIDE [Concomitant]
     Active Substance: SODIUM FLUORIDE
     Indication: Malnutrition
     Dosage: 90 MILLILITER, QD
     Route: 048
     Dates: start: 20190103
  454. SODIUM FLUORIDE [Concomitant]
     Active Substance: SODIUM FLUORIDE
     Dosage: 90 ML, QD
     Route: 048
     Dates: start: 20190103
  455. SODIUM FLUORIDE [Concomitant]
     Active Substance: SODIUM FLUORIDE
     Dosage: UNK
     Route: 065
  456. SODIUM FLUORIDE [Concomitant]
     Active Substance: SODIUM FLUORIDE
     Dosage: UNK
     Route: 065
  457. SODIUM FLUORIDE [Concomitant]
     Active Substance: SODIUM FLUORIDE
     Dosage: UNK
     Route: 065
  458. SODIUM FLUORIDE [Concomitant]
     Active Substance: SODIUM FLUORIDE
     Dosage: UNK
     Route: 065
  459. SODIUM FLUORIDE [Concomitant]
     Active Substance: SODIUM FLUORIDE
     Dosage: UNK
     Route: 065
  460. SODIUM FLUORIDE [Concomitant]
     Active Substance: SODIUM FLUORIDE
     Dosage: UNK
     Route: 065
  461. SODIUM FLUORIDE [Concomitant]
     Active Substance: SODIUM FLUORIDE
     Dosage: UNK
     Route: 065
  462. SODIUM FLUORIDE [Concomitant]
     Active Substance: SODIUM FLUORIDE
     Dosage: UNK
     Route: 065
  463. SODIUM FLUORIDE [Concomitant]
     Active Substance: SODIUM FLUORIDE
     Dosage: UNK
     Route: 065
  464. SODIUM FLUORIDE [Concomitant]
     Active Substance: SODIUM FLUORIDE
     Dosage: UNK
     Route: 065
  465. SODIUM FLUORIDE [Concomitant]
     Active Substance: SODIUM FLUORIDE
     Dosage: UNK
     Route: 065
  466. SODIUM FLUORIDE [Concomitant]
     Active Substance: SODIUM FLUORIDE
     Dosage: UNK
     Route: 065
  467. SODIUM FLUORIDE [Concomitant]
     Active Substance: SODIUM FLUORIDE
     Dosage: UNK
     Route: 065
  468. SODIUM FLUORIDE [Concomitant]
     Active Substance: SODIUM FLUORIDE
     Dosage: UNK
     Route: 065
  469. CHOLECALCIFEROL [Concomitant]
     Active Substance: CHOLECALCIFEROL
     Indication: Prophylaxis
     Dosage: UNK, BID
     Route: 048
     Dates: start: 20190103, end: 20191011
  470. CHOLECALCIFEROL [Concomitant]
     Active Substance: CHOLECALCIFEROL
     Indication: Malnutrition
     Dosage: UNK, QD
     Route: 048
     Dates: start: 20190212, end: 20191015
  471. CHOLECALCIFEROL [Concomitant]
     Active Substance: CHOLECALCIFEROL
     Indication: Bone disorder
     Dosage: UNK, QD
     Route: 048
     Dates: start: 20191016, end: 20191029
  472. CHOLECALCIFEROL [Concomitant]
     Active Substance: CHOLECALCIFEROL
     Dosage: UNK UNK, BID
     Route: 048
     Dates: start: 20190103, end: 20191011
  473. CHOLECALCIFEROL [Concomitant]
     Active Substance: CHOLECALCIFEROL
     Dosage: UNK
     Route: 065
  474. CHOLECALCIFEROL [Concomitant]
     Active Substance: CHOLECALCIFEROL
     Dosage: UNK, BID
     Route: 048
     Dates: start: 20190212, end: 20191015
  475. CHOLECALCIFEROL [Concomitant]
     Active Substance: CHOLECALCIFEROL
     Dosage: UNK
     Route: 065
  476. CHOLECALCIFEROL [Concomitant]
     Active Substance: CHOLECALCIFEROL
     Dosage: UNK
     Route: 065
  477. CHOLECALCIFEROL [Concomitant]
     Active Substance: CHOLECALCIFEROL
     Dosage: UNK
     Route: 065
  478. CHOLECALCIFEROL [Concomitant]
     Active Substance: CHOLECALCIFEROL
     Dosage: UNK
     Route: 065
  479. CHOLECALCIFEROL [Concomitant]
     Active Substance: CHOLECALCIFEROL
     Dosage: UNK
     Route: 065
  480. CHOLECALCIFEROL [Concomitant]
     Active Substance: CHOLECALCIFEROL
     Dosage: UNK
     Route: 065
  481. CHOLECALCIFEROL [Concomitant]
     Active Substance: CHOLECALCIFEROL
     Dosage: UNK
     Route: 065
  482. CHOLECALCIFEROL [Concomitant]
     Active Substance: CHOLECALCIFEROL
     Dosage: UNK
     Route: 065
  483. CHOLECALCIFEROL [Concomitant]
     Active Substance: CHOLECALCIFEROL
     Dosage: UNK
     Route: 065
  484. CALCIUM CARBONATE [Concomitant]
     Active Substance: CALCIUM CARBONATE
     Indication: Malnutrition
     Route: 048
     Dates: start: 20190103, end: 20191011
  485. TRIPTORELIN [Concomitant]
     Active Substance: TRIPTORELIN
     Indication: Prostate cancer
     Dosage: 45 MILLIGRAM, (1 DOSE YEARLY, 11.25 MG)
     Route: 065
     Dates: start: 20190515
  486. TRIPTORELIN [Concomitant]
     Active Substance: TRIPTORELIN
     Dosage: 18.247 MILLIGRAM
     Route: 065
  487. MEGACE [Concomitant]
     Active Substance: MEGESTROL ACETATE
     Indication: Malnutrition
     Dosage: 15 MILLILITER, QD
     Route: 048
     Dates: start: 20191019
  488. MEGACE [Concomitant]
     Active Substance: MEGESTROL ACETATE
     Dosage: 15 MILLILITER, QD
     Route: 048
     Dates: start: 20191011
  489. MEGACE [Concomitant]
     Active Substance: MEGESTROL ACETATE
     Dosage: 7.5 MILLILITER, QD
     Route: 048
     Dates: start: 20191011
  490. MYCOSTATIN [Concomitant]
     Active Substance: NYSTATIN
     Indication: Prophylaxis
     Dosage: 1 DOSAGE FORM, UNK, 3 IN 1 DAY
     Route: 048
     Dates: start: 20190104
  491. MYCOSTATIN [Concomitant]
     Active Substance: NYSTATIN
     Indication: Tongue coated
     Dosage: 1 DOSAGE FORM
     Route: 048
  492. MYCOSTATIN [Concomitant]
     Active Substance: NYSTATIN
     Dosage: 1 MILLILITER, TID (3 ML, QD)
     Route: 048
     Dates: start: 20191116
  493. MYCOSTATIN [Concomitant]
     Active Substance: NYSTATIN
     Route: 048
  494. SODIUM PHOSPHATE [Concomitant]
     Active Substance: SODIUM PHOSPHATE
     Indication: Product used for unknown indication
     Route: 065
     Dates: start: 20190107, end: 20190112
  495. CALCIUM\CHOLECALCIFEROL [Concomitant]
     Active Substance: CALCIUM\CHOLECALCIFEROL
     Indication: Malnutrition
     Dosage: UNK UNK, QD
     Dates: start: 20191020, end: 20191029
  496. CALCIUM\CHOLECALCIFEROL [Concomitant]
     Active Substance: CALCIUM\CHOLECALCIFEROL
     Dosage: UNK UNK, QD
     Dates: start: 20191003, end: 20191011
  497. CALCIUM\CHOLECALCIFEROL [Concomitant]
     Active Substance: CALCIUM\CHOLECALCIFEROL
     Dosage: UNK
     Dates: start: 20191020
  498. DIETARY SUPPLEMENT [Concomitant]
     Active Substance: DIETARY SUPPLEMENT
     Indication: Malnutrition
     Dosage: UNK
     Route: 048
     Dates: start: 20191117
  499. DIETARY SUPPLEMENT [Concomitant]
     Active Substance: DIETARY SUPPLEMENT
     Dosage: 90 ML, QD
     Route: 048
     Dates: start: 20190103, end: 20191111
  500. DIETARY SUPPLEMENT [Concomitant]
     Active Substance: DIETARY SUPPLEMENT
     Dosage: 1 CARTON, QD
     Route: 048
     Dates: start: 20190102, end: 20191029
  501. DIETARY SUPPLEMENT [Concomitant]
     Active Substance: DIETARY SUPPLEMENT
     Dosage: UNK UNK, QD
     Route: 048
     Dates: start: 20190103, end: 20191111
  502. DIETARY SUPPLEMENT [Concomitant]
     Active Substance: DIETARY SUPPLEMENT
     Dosage: UNK
     Route: 065
  503. DIETARY SUPPLEMENT [Concomitant]
     Active Substance: DIETARY SUPPLEMENT
     Dosage: UNK, QD
     Route: 048
     Dates: start: 20191117
  504. DIETARY SUPPLEMENT [Concomitant]
     Active Substance: DIETARY SUPPLEMENT
     Dosage: 90 MILLILITER
     Route: 048
     Dates: start: 20190103
  505. DIETARY SUPPLEMENT [Concomitant]
     Active Substance: DIETARY SUPPLEMENT
     Dosage: UNK
     Route: 065
  506. VITAMINS [Concomitant]
     Active Substance: VITAMINS
     Indication: Prophylaxis
     Dosage: UNK UNK, QD;
     Route: 048
     Dates: start: 20190104
  507. DECAPEPTYL-CR [Concomitant]
     Indication: Prostate cancer
     Dosage: 45 MILLIGRAM;
     Route: 065
     Dates: start: 20190515
  508. DECAPEPTYL-CR [Concomitant]
     Route: 065
  509. DECAPEPTYL-CR [Concomitant]
     Route: 065
  510. PANTOPRAZOLE SODIUM [Concomitant]
     Active Substance: PANTOPRAZOLE SODIUM
     Indication: Prophylaxis
     Dosage: 80 MILLIGRAM, QD
     Route: 048
     Dates: start: 20191016
  511. PANTOPRAZOLE SODIUM [Concomitant]
     Active Substance: PANTOPRAZOLE SODIUM
     Dosage: 40 MILLIGRAM, BID (80 MG, QD)
     Route: 048
     Dates: start: 20191016
  512. PANTOPRAZOLE SODIUM [Concomitant]
     Active Substance: PANTOPRAZOLE SODIUM
     Dosage: 20 MILLIGRAM, QD
     Route: 048
     Dates: start: 20190102, end: 20190102
  513. PANTOPRAZOLE SODIUM [Concomitant]
     Active Substance: PANTOPRAZOLE SODIUM
     Dosage: 20 MILLIGRAM, OD
     Route: 048
     Dates: start: 20190102, end: 20191015
  514. PANTOPRAZOLE SODIUM [Concomitant]
     Active Substance: PANTOPRAZOLE SODIUM
     Dosage: UNK UNK, QD
     Route: 048
     Dates: start: 20191020, end: 20191020
  515. PANTOPRAZOLE SODIUM [Concomitant]
     Active Substance: PANTOPRAZOLE SODIUM
     Dosage: 80 MILLIGRAM, QD
     Route: 048
     Dates: start: 20191016
  516. ZODORM [ZOLPIDEM TARTRATE] [Concomitant]
     Indication: Prophylaxis
     Dosage: 10 MILLIGRAM, UNK
     Route: 048
     Dates: start: 20180816, end: 20191029
  517. ZODORM [ZOLPIDEM TARTRATE] [Concomitant]
     Dosage: 10 MILLIGRAM, UNK
     Route: 048
     Dates: start: 20180819, end: 20191029
  518. BEMIN [THIAMINE HYDROCHLORIDE] [Concomitant]
     Indication: Product used for unknown indication
     Dosage: 300 MILLIGRAM
     Route: 048
     Dates: start: 20190105, end: 20190112
  519. MAGLAX [MAGNESIUM OXIDE] [Concomitant]
     Indication: Malnutrition
     Route: 048
     Dates: start: 20190103, end: 20191011
  520. CORVITOL [METOPROLOL] [Concomitant]
     Indication: Hypertension
     Dosage: 25 MILLIGRAM, BID (1 DOSE 12 HOURS)
     Route: 048
  521. CORVITOL [METOPROLOL] [Concomitant]
     Dosage: 50 MILLIGRAM, QD
     Route: 048
  522. CORVITOL [METOPROLOL] [Concomitant]
     Dosage: 50 MILLIGRAM, QD
     Route: 048
  523. CORVITOL [METOPROLOL] [Concomitant]
     Dosage: 50 MILLIGRAM, QD
     Route: 048
  524. CORVITOL [METOPROLOL] [Concomitant]
     Dosage: 25 MILLIGRAM
     Route: 048
  525. CORVITOL [METOPROLOL] [Concomitant]
     Dosage: 50 MILLIGRAM, QD
     Route: 065
  526. CORVITOL [METOPROLOL] [Concomitant]
     Dosage: 50 MILLIGRAM, BID
     Route: 048
  527. CORVITOL [METOPROLOL] [Concomitant]
     Dosage: 50 MILLIGRAM, QD
     Route: 065
  528. CORVITOL [METOPROLOL] [Concomitant]
     Dosage: 50 MILLIGRAM, QD
     Route: 048
  529. CORVITOL [METOPROLOL] [Concomitant]
     Dosage: 50 MILLIGRAM, QD
     Route: 048
  530. CORVITOL [METOPROLOL] [Concomitant]
     Dosage: 25 MILLIGRAM
     Route: 048
  531. CORVITOL [METOPROLOL] [Concomitant]
     Dosage: 25 MILLIGRAM, BID (1 DOSE 12 HOURS)
     Route: 048
  532. CORVITOL [METOPROLOL] [Concomitant]
     Dosage: 50 MILLIGRAM, QD
     Route: 048
  533. CORVITOL [METOPROLOL] [Concomitant]
     Dosage: 25 MILLIGRAM
     Route: 048
  534. CORVITOL [METOPROLOL] [Concomitant]
     Dosage: 50 MILLIGRAM, QD
     Route: 048
  535. CORVITOL [METOPROLOL] [Concomitant]
     Dosage: 50 MILLIGRAM, QD
     Route: 048
  536. CORVITOL [METOPROLOL] [Concomitant]
     Dosage: 25 MG
     Route: 048
  537. CORVITOL [METOPROLOL] [Concomitant]
     Dosage: 25 MG, BID
     Route: 048
  538. CORVITOL [METOPROLOL] [Concomitant]
     Dosage: 50 MG, QD
     Route: 048
  539. CORVITOL [METOPROLOL] [Concomitant]
     Dosage: 25 MG, BID (25 MG, 1 DOSE 12 HOURS)
     Route: 048
  540. CORVITOL [METOPROLOL] [Concomitant]
     Dosage: 50 MG, QD
     Route: 048
  541. CORVITOL [METOPROLOL] [Concomitant]
     Dosage: 50 MG, QD
     Route: 048
  542. CORVITOL [METOPROLOL] [Concomitant]
     Dosage: 25 MG (1 DOSE, 12 HRS)
     Route: 048
  543. CORVITOL [METOPROLOL] [Concomitant]
     Dosage: 50 MILLIGRAM
     Route: 048
  544. CORVITOL [METOPROLOL] [Concomitant]
     Dosage: 50 MG, QD
     Route: 048
  545. CORVITOL [METOPROLOL] [Concomitant]
     Dosage: 25 MG (1 DOSE, 12 HRS)
     Route: 048
  546. CORVITOL [METOPROLOL] [Concomitant]
     Dosage: 25 MILLIGRAM, BID
     Route: 048
  547. CORVITOL [METOPROLOL] [Concomitant]
     Dosage: 50 MILLIGRAM, QD
     Route: 048
  548. CORVITOL [METOPROLOL] [Concomitant]
     Dosage: 50 MILLIGRAM, QD
     Route: 048
  549. CORVITOL [METOPROLOL] [Concomitant]
     Dosage: 50 MILLIGRAM, QD
     Route: 048
  550. CORVITOL [METOPROLOL] [Concomitant]
     Dosage: 25 MILLIGRAM, BID
     Route: 048
  551. CORVITOL [METOPROLOL] [Concomitant]
     Dosage: 50 MILLIGRAM, QD
     Route: 048
  552. CORVITOL [METOPROLOL] [Concomitant]
     Dosage: 25 MILLIGRAM, BID
     Route: 048
  553. CORVITOL [METOPROLOL] [Concomitant]
     Dosage: 25 MILLIGRAM, BID
     Route: 048
  554. CORVITOL [METOPROLOL] [Concomitant]
     Dosage: 50 MG, QD
     Route: 048
  555. CORVITOL [METOPROLOL] [Concomitant]
     Dosage: 25 MG
     Route: 048
  556. CORVITOL [METOPROLOL] [Concomitant]
     Dosage: 25 MG, Q12H
     Route: 048
  557. CORVITOL [METOPROLOL] [Concomitant]
     Dosage: 50 MG, QD, (25 MG, BID)
     Route: 048
  558. CORVITOL [METOPROLOL] [Concomitant]
     Dosage: 50 MG, QD
     Route: 048
  559. CORVITOL [METOPROLOL] [Concomitant]
     Dosage: 50 MG, QD
     Route: 048
  560. CORVITOL [METOPROLOL] [Concomitant]
     Dosage: 50 MG, QD
     Route: 048
  561. CORVITOL [METOPROLOL] [Concomitant]
     Dosage: 50 MG, QD
     Route: 048
  562. CORVITOL [METOPROLOL] [Concomitant]
     Dosage: 25 MG, BID
     Route: 048
  563. CORVITOL [METOPROLOL] [Concomitant]
     Dosage: 25 MG, BID (25 MG, 1 DOSE 12 HOURS)
     Route: 048
  564. CORVITOL [METOPROLOL] [Concomitant]
     Dosage: 50 MG, QD
     Route: 048
  565. CORVITOL [METOPROLOL] [Concomitant]
     Dosage: 25 MG
     Route: 048
  566. CORVITOL [METOPROLOL] [Concomitant]
     Route: 065
  567. CORVITOL [METOPROLOL] [Concomitant]
     Route: 065
  568. CORVITOL [METOPROLOL] [Concomitant]
     Dosage: 50 MG, QD
     Route: 048
  569. CORVITOL [METOPROLOL] [Concomitant]
     Dosage: 50 MG, QD, (25 MG, BID)
     Route: 048
  570. CORVITOL [METOPROLOL] [Concomitant]
     Dosage: 25 MG
     Route: 048
  571. CORVITOL [METOPROLOL] [Concomitant]
     Dosage: 50 MG, QD
     Route: 048
  572. CORVITOL [METOPROLOL] [Concomitant]
     Dosage: 25 MG, Q12H
     Route: 048
  573. CORVITOL [METOPROLOL] [Concomitant]
     Dosage: 50 MG, QD
     Route: 048
  574. CORVITOL [METOPROLOL] [Concomitant]
     Dosage: 50 MG, QD
     Route: 048
  575. CORVITOL [METOPROLOL] [Concomitant]
     Dosage: 50 MG, QD
     Route: 048
  576. CORVITOL [METOPROLOL] [Concomitant]
     Dosage: 50 MG, QD
     Route: 048
  577. CORVITOL [METOPROLOL] [Concomitant]
     Dosage: 25 MG, BID
     Route: 048
  578. CORVITOL [METOPROLOL] [Concomitant]
     Dosage: 25 MG, BID (25 MG, 1 DOSE 12 HOURS)
     Route: 048
  579. CORVITOL [METOPROLOL] [Concomitant]
     Dosage: 25 MG
     Route: 048
  580. CORVITOL [METOPROLOL] [Concomitant]
     Dosage: 50 MILLIGRAM, QD
     Route: 048
  581. CORVITOL [METOPROLOL] [Concomitant]
     Dosage: 50 MILLIGRAM, QD
     Route: 048
  582. CORVITOL [METOPROLOL] [Concomitant]
     Dosage: 50 MILLIGRAM, QD
     Route: 065
  583. CORVITOL [METOPROLOL] [Concomitant]
     Dosage: 25 MILLIGRAM, BID (1 DOSE 12 HOURS)
     Route: 048
  584. CORVITOL [METOPROLOL] [Concomitant]
     Dosage: 50 MILLIGRAM, QD
     Route: 048
  585. CORVITOL [METOPROLOL] [Concomitant]
     Dosage: 25 MILLIGRAM
     Route: 048
  586. CORVITOL [METOPROLOL] [Concomitant]
     Dosage: 50 MG, QD
     Route: 048
  587. CORVITOL [METOPROLOL] [Concomitant]
     Dosage: 25 MG
     Route: 048
  588. CORVITOL [METOPROLOL] [Concomitant]
     Dosage: 25 MG, BID (25 MG, 1 DOSE 12 HOURS)
     Route: 048
  589. CORVITOL [METOPROLOL] [Concomitant]
     Dosage: 50 MG, QD
     Route: 048
  590. CORVITOL [METOPROLOL] [Concomitant]
     Dosage: 50 MG, QD
     Route: 048
  591. CORVITOL [METOPROLOL] [Concomitant]
     Dosage: 25 MG, BID
     Route: 048
  592. CORVITOL [METOPROLOL] [Concomitant]
     Dosage: 50 MG, QD
     Route: 048
  593. CORVITOL [METOPROLOL] [Concomitant]
     Dosage: 50 MG, QD
     Route: 048
  594. CORVITOL [METOPROLOL] [Concomitant]
     Dosage: 50 MG, QD
     Route: 048
  595. CORVITOL [METOPROLOL] [Concomitant]
     Dosage: 25 MG (1 DOSE, 12 HRS)
     Route: 048
  596. CORVITOL [METOPROLOL] [Concomitant]
     Dosage: 25 MILLIGRAM
     Route: 048
  597. CORVITOL [METOPROLOL] [Concomitant]
     Dosage: 25 MILLIGRAM, BID (1 DOSE 12 HOURS)
     Route: 048
  598. CORVITOL [METOPROLOL] [Concomitant]
     Dosage: 50 MILLIGRAM, QD
     Route: 048
  599. CORVITOL [METOPROLOL] [Concomitant]
     Dosage: 50 MILLIGRAM, QD
     Route: 048
  600. CORVITOL [METOPROLOL] [Concomitant]
     Dosage: 50 MILLIGRAM, QD
     Route: 065
  601. CORVITOL [METOPROLOL] [Concomitant]
     Dosage: 50 MILLIGRAM, QD
     Route: 048
  602. CORVITOL [METOPROLOL] [Concomitant]
     Dosage: 25 MG, Q12H
     Route: 048
  603. CORVITOL [METOPROLOL] [Concomitant]
     Dosage: 50 MG, QD, (25 MG, BID)
     Route: 048
  604. CORVITOL [METOPROLOL] [Concomitant]
     Dosage: 50 MG, QD
     Route: 048
  605. CORVITOL [METOPROLOL] [Concomitant]
     Dosage: 25 MG
     Route: 048
  606. CORVITOL [METOPROLOL] [Concomitant]
     Dosage: 50 MG, QD
     Route: 048
  607. CORVITOL [METOPROLOL] [Concomitant]
     Dosage: 50 MG, QD
     Route: 048
  608. CORVITOL [METOPROLOL] [Concomitant]
     Dosage: 25 MG, Q12H
     Route: 048
  609. CORVITOL [METOPROLOL] [Concomitant]
     Dosage: 25 MG
     Route: 048
  610. CORVITOL [METOPROLOL] [Concomitant]
     Dosage: 50 MG, QD
     Route: 048
  611. CORVITOL [METOPROLOL] [Concomitant]
     Dosage: 50 MG, QD, (25 MG, BID)
     Route: 048
  612. CORVITOL [METOPROLOL] [Concomitant]
     Dosage: 50 MG, QD
     Route: 048
  613. CORVITOL [METOPROLOL] [Concomitant]
     Dosage: 50 MG, QD
     Route: 048
  614. CORVITOL [METOPROLOL] [Concomitant]
     Dosage: 50 MILLIGRAM, QD
     Route: 048
  615. CORVITOL [METOPROLOL] [Concomitant]
     Dosage: 50 MILLIGRAM, QD
     Route: 065
  616. CORVITOL [METOPROLOL] [Concomitant]
     Dosage: 25 MILLIGRAM, BID (1 DOSE 12 HOURS)
     Route: 048
  617. CORVITOL [METOPROLOL] [Concomitant]
     Dosage: 50 MILLIGRAM, QD
     Route: 048
  618. CORVITOL [METOPROLOL] [Concomitant]
     Dosage: 25 MILLIGRAM
     Route: 048
  619. CORVITOL [METOPROLOL] [Concomitant]
     Dosage: 50 MILLIGRAM, QD
     Route: 048
  620. CORVITOL [METOPROLOL] [Concomitant]
     Dosage: 25 MILLIGRAM
     Route: 048
  621. CORVITOL [METOPROLOL] [Concomitant]
     Dosage: 50 MILLIGRAM, QD
     Route: 048
  622. CORVITOL [METOPROLOL] [Concomitant]
     Dosage: 50 MILLIGRAM, QD
     Route: 065
  623. CORVITOL [METOPROLOL] [Concomitant]
     Dosage: 50 MILLIGRAM, BID
     Route: 048
  624. CORVITOL [METOPROLOL] [Concomitant]
     Dosage: 25 MILLIGRAM
     Route: 048
  625. CORVITOL [METOPROLOL] [Concomitant]
     Dosage: 50 MILLIGRAM, QD
     Route: 048
  626. CORVITOL [METOPROLOL] [Concomitant]
     Dosage: 50 MILLIGRAM, QD
     Route: 048
  627. CORVITOL [METOPROLOL] [Concomitant]
     Dosage: 25 MILLIGRAM
     Route: 048
  628. CORVITOL [METOPROLOL] [Concomitant]
     Dosage: 25 MILLIGRAM, BID (1 DOSE 12 HOURS)
     Route: 048
  629. CORVITOL [METOPROLOL] [Concomitant]
     Dosage: 50 MILLIGRAM, QD
  630. CORVITOL [METOPROLOL] [Concomitant]
     Dosage: 50 MILLIGRAM, QD
  631. CORVITOL [METOPROLOL] [Concomitant]
     Dosage: 25 MILLIGRAM, BID
  632. CORVITOL [METOPROLOL] [Concomitant]
     Dosage: 25 MILLIGRAM, BID
  633. CORVITOL [METOPROLOL] [Concomitant]
     Dosage: 50 MILLIGRAM, QD
  634. CORVITOL [METOPROLOL] [Concomitant]
     Dosage: 25 MILLIGRAM, BID
  635. CENTRUM PERFORMANCE [GINKGO BILOBA LEAF EXTRACT;MINERALS NOS;PANAX GIN [Concomitant]
     Indication: Prophylaxis
     Dosage: UNK
     Route: 065
  636. CENTRUM PERFORMANCE [GINKGO BILOBA LEAF EXTRACT;MINERALS NOS;PANAX GIN [Concomitant]
     Dosage: 1 DOSAGE FORM, QD
     Route: 048
     Dates: start: 20190104
  637. CENTRUM PERFORMANCE [GINKGO BILOBA LEAF EXTRACT;MINERALS NOS;PANAX GIN [Concomitant]
     Dosage: UNK UNK, QD
     Route: 048
     Dates: start: 20190104
  638. HYPOTEN [AMLODIPINE] [Concomitant]
     Indication: Hypertension
     Dosage: 10 MILLIGRAM, QD
     Route: 048
  639. HYPOTEN [AMLODIPINE] [Concomitant]
     Dosage: 10 MILLIGRAM, QD
     Route: 048
     Dates: end: 20191204
  640. HYPOTEN [AMLODIPINE] [Concomitant]
     Dosage: 10 MILLIGRAM, QD
     Route: 048
     Dates: end: 20191204
  641. HYPOTEN [AMLODIPINE] [Concomitant]
     Dosage: 10 MILLIGRAM, QD
     Route: 048
  642. HYPOTEN [AMLODIPINE] [Concomitant]
     Dosage: 10 MILLIGRAM, QD
     Route: 048
     Dates: start: 20191204
  643. HYPOTEN [AMLODIPINE] [Concomitant]
     Dosage: 10 MILLIGRAM, OD
     Route: 048
     Dates: start: 20191204, end: 20191204
  644. HEXAVIT [VITAMINS NOS] [Concomitant]
     Indication: Prophylaxis
     Dosage: UNK UNK, QD
     Route: 048
     Dates: start: 20190104
  645. HEXAVIT [VITAMINS NOS] [Concomitant]
     Dosage: UNK UNK, QD
     Route: 048
     Dates: start: 20190103, end: 20191111
  646. HEXAVIT [VITAMINS NOS] [Concomitant]
     Dosage: UNK UNK, QD
     Route: 065
     Dates: start: 20190102, end: 20190129
  647. DIPHENHYDRAMINE;RETINOL;TRICLOCARBAN;VITAMIN D NOS;ZINC [Concomitant]
     Indication: Malnutrition
     Dosage: UNK, QD
     Route: 048
     Dates: start: 20190104
  648. DIPHENHYDRAMINE;RETINOL;TRICLOCARBAN;VITAMIN D NOS;ZINC [Concomitant]
     Indication: Prophylaxis
     Dosage: UNK UNK, BID
     Route: 065
     Dates: start: 20190103, end: 20191011
  649. DIPHENHYDRAMINE;RETINOL;TRICLOCARBAN;VITAMIN D NOS;ZINC [Concomitant]
     Dosage: UNK, QD
     Route: 048
     Dates: start: 20190104
  650. DIPHENHYDRAMINE;RETINOL;TRICLOCARBAN;VITAMIN D NOS;ZINC [Concomitant]
     Dosage: UNK, BID
     Route: 048
     Dates: start: 20190102, end: 20191029
  651. DIPHENHYDRAMINE;RETINOL;TRICLOCARBAN;VITAMIN D NOS;ZINC [Concomitant]
     Dosage: UNK, QD
     Route: 048
     Dates: start: 20190102, end: 20191029
  652. DIPHENHYDRAMINE;RETINOL;TRICLOCARBAN;VITAMIN D NOS;ZINC [Concomitant]
     Dosage: UNK UNK, BID
     Route: 048
     Dates: start: 20190103
  653. DIPHENHYDRAMINE;RETINOL;TRICLOCARBAN;VITAMIN D NOS;ZINC [Concomitant]
     Dosage: UNK UNK, QD
     Route: 065
     Dates: start: 20190102, end: 20190129
  654. DIPHENHYDRAMINE;RETINOL;TRICLOCARBAN;VITAMIN D NOS;ZINC [Concomitant]
     Dosage: UNK
     Route: 065
     Dates: start: 20190103, end: 20191011
  655. DIPHENHYDRAMINE;RETINOL;TRICLOCARBAN;VITAMIN D NOS;ZINC [Concomitant]
     Dosage: UNK UNK, BID
     Route: 048
     Dates: start: 20190103, end: 20191011
  656. MAGNOZONE [MAGNESIUM OXIDE] [Concomitant]
     Indication: Malnutrition
     Dosage: UNK UNK, BID
     Route: 048
     Dates: start: 20190103, end: 20191011
  657. MAGNOZONE [MAGNESIUM OXIDE] [Concomitant]
     Dosage: UNK
     Route: 065
  658. MAGNOZONE [MAGNESIUM OXIDE] [Concomitant]
     Dosage: UNK, UNK, QD
     Route: 048
     Dates: start: 20190103, end: 20191011
  659. MAGNOZONE [MAGNESIUM OXIDE] [Concomitant]
     Dosage: UNK
     Route: 065
  660. MAGNOZONE [MAGNESIUM OXIDE] [Concomitant]
     Dosage: UNK
     Route: 065
  661. MAGNOZONE [MAGNESIUM OXIDE] [Concomitant]
     Dosage: UNK
     Route: 065
  662. MAGNOZONE [MAGNESIUM OXIDE] [Concomitant]
     Dosage: UNK
     Route: 065
  663. MAGNOZONE [MAGNESIUM OXIDE] [Concomitant]
     Dosage: UNK
     Route: 065
  664. MAGNOZONE [MAGNESIUM OXIDE] [Concomitant]
     Dosage: UNK
     Route: 065
  665. MAGNOZONE [MAGNESIUM OXIDE] [Concomitant]
     Dosage: UNK
     Route: 065
  666. MAGNOZONE [MAGNESIUM OXIDE] [Concomitant]
     Dosage: UNK
     Route: 065
  667. MAGNOZONE [MAGNESIUM OXIDE] [Concomitant]
     Dosage: UNK
     Route: 065
  668. MAGNOZONE [MAGNESIUM OXIDE] [Concomitant]
     Dosage: UNK
     Route: 048
  669. MAGNOZONE [MAGNESIUM OXIDE] [Concomitant]
     Dosage: UNK
     Route: 048
  670. MAGNOZONE [MAGNESIUM OXIDE] [Concomitant]
     Dosage: UNK
     Route: 065
  671. MAGNOZONE [MAGNESIUM OXIDE] [Concomitant]
     Dosage: UNK, UNK, QD
     Route: 048
     Dates: start: 20190103, end: 20191011
  672. MAGNOZONE [MAGNESIUM OXIDE] [Concomitant]
     Dosage: UNK
     Route: 065
  673. PRIMODIL [AMLODIPINE] [Concomitant]
     Indication: Hypertension
     Dosage: 10 MILLIGRAM, QD
     Route: 048
     Dates: start: 20191204
  674. PRIMODIL [AMLODIPINE] [Concomitant]
     Dosage: 10 MILLIGRAM, QD
     Route: 048
  675. PRIMODIL [AMLODIPINE] [Concomitant]
     Dosage: 10 MILLIGRAM, OD
     Route: 048
     Dates: start: 20191204, end: 20191204
  676. PRIMODIL [AMLODIPINE] [Concomitant]
     Dosage: 10 MILLIGRAM, QD
     Route: 048
  677. PRIMODIL [AMLODIPINE] [Concomitant]
     Dosage: 10 MILLIGRAM, QD
     Route: 048
     Dates: end: 20191204
  678. PRIMODIL [AMLODIPINE] [Concomitant]
     Dosage: 10 MILLIGRAM, QD
     Route: 048
     Dates: start: 20191204
  679. PRIMODIL [AMLODIPINE] [Concomitant]
     Dosage: 10 MILLIGRAM, QD
     Route: 048
  680. PRIMODIL [AMLODIPINE] [Concomitant]
     Dosage: 10 MG, QD
     Route: 048
  681. PRIMODIL [AMLODIPINE] [Concomitant]
     Dosage: 10 MG, QD
     Route: 048
  682. PRIMODIL [AMLODIPINE] [Concomitant]
     Dosage: 10 MILLIGRAM, QD
     Route: 048
  683. PRIMODIL [AMLODIPINE] [Concomitant]
     Dosage: 10 MILLIGRAM, QD
     Route: 048
  684. PRIMODIL [AMLODIPINE] [Concomitant]
     Dosage: 10 MG, QD
     Route: 048
  685. PRIMODIL [AMLODIPINE] [Concomitant]
     Dosage: 10 MG, QD
     Route: 048
  686. PRIMODIL [AMLODIPINE] [Concomitant]
     Route: 065
  687. PRIMODIL [AMLODIPINE] [Concomitant]
     Route: 065
  688. PRIMODIL [AMLODIPINE] [Concomitant]
     Dosage: 10 MG, QD
     Route: 048
  689. PRIMODIL [AMLODIPINE] [Concomitant]
     Dosage: 10 MG, QD
     Route: 048
  690. PRIMODIL [AMLODIPINE] [Concomitant]
     Dosage: 10 MILLIGRAM, QD
     Route: 048
  691. PRIMODIL [AMLODIPINE] [Concomitant]
     Dosage: 10 MILLIGRAM, QD
     Route: 048
  692. PRIMODIL [AMLODIPINE] [Concomitant]
     Dosage: 10 MG, QD
     Route: 048
  693. PRIMODIL [AMLODIPINE] [Concomitant]
     Dosage: 10 MG, QD
     Route: 048
  694. PRIMODIL [AMLODIPINE] [Concomitant]
     Dosage: 10 MILLIGRAM, QD
     Route: 048
  695. PRIMODIL [AMLODIPINE] [Concomitant]
     Dosage: 10 MILLIGRAM, QD
     Route: 048
  696. PRIMODIL [AMLODIPINE] [Concomitant]
     Dosage: 10 MG, QD
     Route: 048
  697. PRIMODIL [AMLODIPINE] [Concomitant]
     Dosage: 10 MG, QD
     Route: 048
  698. PRIMODIL [AMLODIPINE] [Concomitant]
     Dosage: 10 MILLIGRAM, QD
     Route: 048
  699. PRIMODIL [AMLODIPINE] [Concomitant]
     Dosage: 10 MILLIGRAM, QD
     Route: 048
  700. PRIMODIL [AMLODIPINE] [Concomitant]
     Dosage: 10 MILLIGRAM, QD
     Route: 048
     Dates: end: 20191204
  701. PRIMODIL [AMLODIPINE] [Concomitant]
     Dosage: 10 MILLIGRAM, QD
     Route: 048
  702. PRIMODIL [AMLODIPINE] [Concomitant]
     Dosage: 10 MILLIGRAM, QD
     Route: 048
  703. SODIUM FLUORIDE [Concomitant]
     Active Substance: SODIUM FLUORIDE
     Indication: Malnutrition
     Dosage: 90 MILLILITER
     Route: 048
     Dates: start: 20190103
  704. altraplen protein [Concomitant]
     Indication: Malnutrition
     Dosage: 1 CARTON
     Route: 048
     Dates: start: 20191117
  705. DIETARY SUPPLEMENT [Concomitant]
     Active Substance: DIETARY SUPPLEMENT
     Indication: Malnutrition
     Dosage: 90 ML, QD
     Route: 048
     Dates: start: 20190103
  706. DIETARY SUPPLEMENT [Concomitant]
     Active Substance: DIETARY SUPPLEMENT
     Dosage: UNK UNK, QD
     Route: 048
     Dates: start: 20190103, end: 20191111
  707. DIETARY SUPPLEMENT [Concomitant]
     Active Substance: DIETARY SUPPLEMENT
     Dosage: 1 CARTON, QD
     Route: 048
     Dates: start: 20190102, end: 20191029
  708. FORTICAL [CALCIUM CARBONATE;COLECALCIFEROL;LYSINE HYDROCHLORIDE] [Concomitant]
     Indication: Product used for unknown indication
     Dosage: UNK
     Route: 065
  709. HYPOTEN [AMLODIPINE] [Concomitant]
     Indication: Hypertension
     Dosage: 10 MILLIGRAM, QD
  710. HYPOTEN [AMLODIPINE] [Concomitant]
     Dosage: 10 MILLIGRAM
  711. HYPOTEN [AMLODIPINE] [Concomitant]
     Dosage: 10 MILLIGRAM, QD
     Dates: start: 20191204, end: 20191204
  712. XYLOCAINA [LIDOCAINE] [Concomitant]
     Indication: Tongue coated
     Dosage: 30 MILLILITER, QD
     Dates: start: 20191116
  713. XYLOCAINA [LIDOCAINE] [Concomitant]
     Indication: Malnutrition
     Dosage: UNK, QD
     Dates: start: 20190103, end: 20191011
  714. XYLOCAINA [LIDOCAINE] [Concomitant]
     Dosage: 90 MILLILITER, QD
     Dates: start: 20191116, end: 20191220
  715. DOPPELHERZ AKTIV VITAMIN D [VITAMIN D NOS] [Concomitant]
     Indication: Malnutrition
     Dosage: UNK, QD
     Dates: start: 20190104
  716. DOPPELHERZ AKTIV VITAMIN D [VITAMIN D NOS] [Concomitant]
     Dosage: UNK, BID
     Dates: start: 20190102, end: 20191029
  717. DOPPELHERZ AKTIV VITAMIN D [VITAMIN D NOS] [Concomitant]
     Dosage: UNK, QD
     Dates: start: 20190103, end: 20191111
  718. DOPPELHERZ AKTIV VITAMIN D [VITAMIN D NOS] [Concomitant]
     Dosage: UNK, QD
     Dates: start: 20190102, end: 20190129
  719. DOPPELHERZ AKTIV VITAMIN D [VITAMIN D NOS] [Concomitant]
     Dosage: UNK, BID
     Dates: start: 20190102, end: 20191029
  720. DOPPELHERZ AKTIV VITAMIN D [VITAMIN D NOS] [Concomitant]
     Dosage: UNK, BID
     Dates: start: 20190103, end: 20191011
  721. DOPPELHERZ AKTIV VITAMIN D [VITAMIN D NOS] [Concomitant]
     Dosage: UNK, BID
     Dates: start: 20190104
  722. CHOLECALCIFEROL [Concomitant]
     Active Substance: CHOLECALCIFEROL
     Indication: Product used for unknown indication
     Dosage: UNK
     Route: 065
  723. LEVEMIR [Concomitant]
     Active Substance: INSULIN DETEMIR
     Indication: Product used for unknown indication
     Dosage: UNK
     Route: 065
  724. LEVEMIR [Concomitant]
     Active Substance: INSULIN DETEMIR
     Dosage: UNK
     Route: 065
  725. METHOTREXATE SODIUM [Concomitant]
     Active Substance: METHOTREXATE SODIUM
     Indication: Blood pressure abnormal
     Dosage: UNK
     Route: 065
  726. METHOTREXATE SODIUM [Concomitant]
     Active Substance: METHOTREXATE SODIUM
     Dosage: UNK
     Route: 065
  727. NOVORAPID [Concomitant]
     Active Substance: INSULIN ASPART
     Indication: Product used for unknown indication
     Dosage: UNK
     Route: 065
  728. NOVORAPID [Concomitant]
     Active Substance: INSULIN ASPART
     Dosage: UNK
     Route: 065
  729. METOCLOPRAMIDE HYDROCHLORIDE [Concomitant]
     Active Substance: METOCLOPRAMIDE HYDROCHLORIDE
     Indication: Product used for unknown indication
     Route: 065
  730. METOCLOPRAMIDE HYDROCHLORIDE [Concomitant]
     Active Substance: METOCLOPRAMIDE HYDROCHLORIDE
     Route: 065

REACTIONS (11)
  - Neutropenia [Recovered/Resolved]
  - Respiratory tract infection viral [Fatal]
  - Thrombocytopenia [Fatal]
  - Respiratory tract infection bacterial [Fatal]
  - Respiratory tract infection [Fatal]
  - Pulmonary embolism [Fatal]
  - COVID-19 [Fatal]
  - Anaemia [Recovered/Resolved]
  - Intentional product use issue [Unknown]
  - Full blood count abnormal [Unknown]
  - Malaise [Unknown]

NARRATIVE: CASE EVENT DATE: 20181008
